FAERS Safety Report 24880286 (Version 1)
Quarter: 2025Q1

REPORT INFORMATION
  Report Type: Spontaneous
  Country: GB (occurrence: CA)
  Receive Date: 20250123
  Receipt Date: 20250123
  Transmission Date: 20250409
  Serious: Yes (Other)
  Sender: ALEXION PHARMACEUTICALS
  Company Number: None

PATIENT
  Age: 53 Year

DRUGS (1591)
  1. DAPAGLIFLOZIN [Suspect]
     Active Substance: DAPAGLIFLOZIN
     Indication: Ill-defined disorder
  2. OXYCODONE HYDROCHLORIDE [Suspect]
     Active Substance: OXYCODONE HYDROCHLORIDE
     Indication: Product used for unknown indication
     Dosage: 10 MILLIGRAM, DAILY (5 MILLIGRAM, 2 DOSE PER 1 D)
     Route: 065
  3. OXYCODONE HYDROCHLORIDE [Suspect]
     Active Substance: OXYCODONE HYDROCHLORIDE
     Route: 065
  4. ADALIMUMAB [Suspect]
     Active Substance: ADALIMUMAB
  5. ADALIMUMAB [Suspect]
     Active Substance: ADALIMUMAB
  6. ADALIMUMAB [Suspect]
     Active Substance: ADALIMUMAB
  7. ADALIMUMAB [Suspect]
     Active Substance: ADALIMUMAB
     Indication: Crohn^s disease
  8. ADALIMUMAB [Suspect]
     Active Substance: ADALIMUMAB
     Indication: Colitis ulcerative
  9. ALBENDAZOLE [Suspect]
     Active Substance: ALBENDAZOLE
     Indication: Deep vein thrombosis
  10. ALBENDAZOLE [Suspect]
     Active Substance: ALBENDAZOLE
     Indication: Colitis ulcerative
  11. ALBENDAZOLE [Suspect]
     Active Substance: ALBENDAZOLE
     Indication: Deep vein thrombosis
  12. ALBENDAZOLE [Suspect]
     Active Substance: ALBENDAZOLE
     Indication: Colitis ulcerative
  13. ALBENDAZOLE [Suspect]
     Active Substance: ALBENDAZOLE
  14. ALBENDAZOLE [Suspect]
     Active Substance: ALBENDAZOLE
  15. ASACOL [Suspect]
     Active Substance: MESALAMINE
     Indication: Colitis ulcerative
     Dosage: 3 GRAM,  EVERY 12 HOURS
     Route: 065
  16. ASACOL [Suspect]
     Active Substance: MESALAMINE
     Indication: Product used for unknown indication
     Route: 065
  17. ASACOL [Suspect]
     Active Substance: MESALAMINE
     Indication: Colitis ulcerative
     Route: 065
  18. ASACOL [Suspect]
     Active Substance: MESALAMINE
     Dosage: 1 DOSAGE FORM,  1 EVERY 1 DAYS
     Route: 065
  19. ASACOL [Suspect]
     Active Substance: MESALAMINE
     Dosage: 3 DOSAGE FORM, Q12H
     Route: 065
  20. ASACOL [Suspect]
     Active Substance: MESALAMINE
     Dosage: 3 GRAM,  1 EVERY 1 DAYS
     Route: 065
  21. ASACOL [Suspect]
     Active Substance: MESALAMINE
     Dosage: 12 DOSAGE FORM,  1 EVERY 1 DAYS
     Route: 065
  22. ASACOL [Suspect]
     Active Substance: MESALAMINE
     Route: 065
  23. ASACOL [Suspect]
     Active Substance: MESALAMINE
     Dosage: 4.8 DOSAGE FORM,  1 EVERY 1 DAYS
     Route: 065
  24. ASACOL [Suspect]
     Active Substance: MESALAMINE
     Dosage: 6.0 DOSAGE FORM,  2 EVERY 1 DAYS
     Route: 065
  25. ASACOL [Suspect]
     Active Substance: MESALAMINE
     Dosage: 4.8 DOSAGE FORM,  1 EVERY 1 DAYS
     Route: 065
  26. ASACOL [Suspect]
     Active Substance: MESALAMINE
     Dosage: 6.0 DOSAGE FORM,  1 EVERY 1 DAYS
  27. ASACOL [Suspect]
     Active Substance: MESALAMINE
     Dosage: 3 GRAM,  2 EVERY 1 DAYS
     Route: 065
  28. ASACOL [Suspect]
     Active Substance: MESALAMINE
     Dosage: 2.4 GRAM,  1 EVERY 1 DAYS
     Route: 065
  29. ASACOL [Suspect]
     Active Substance: MESALAMINE
     Dosage: 1 DOSAGE FORM,  1 EVERY 1 DAYS
  30. ASACOL [Suspect]
     Active Substance: MESALAMINE
  31. ASACOL [Suspect]
     Active Substance: MESALAMINE
  32. ASACOL [Suspect]
     Active Substance: MESALAMINE
  33. ASACOL [Suspect]
     Active Substance: MESALAMINE
     Dosage: 4.8 GRAM, 1 DOSE PER 1 D
  34. ASACOL [Suspect]
     Active Substance: MESALAMINE
     Dosage: 4.8 GRAM, 1 DOSE PER 1 D
  35. ASACOL [Suspect]
     Active Substance: MESALAMINE
  36. ASACOL [Suspect]
     Active Substance: MESALAMINE
     Dosage: 6 DOSAGE FORM, 2 DOSE PER 1 D
  37. ASACOL [Suspect]
     Active Substance: MESALAMINE
  38. ASACOL [Suspect]
     Active Substance: MESALAMINE
     Dosage: 3 DOSAGE FORM, 1 DOSE PER 12HR
  39. ASACOL [Suspect]
     Active Substance: MESALAMINE
     Dosage: 40 MILLIGRAM, 1 DOSE PER 1 D
  40. ASACOL [Suspect]
     Active Substance: MESALAMINE
     Dosage: 50 MILLIGRAM, 1 DOSE PER 1 D
  41. ASACOL [Suspect]
     Active Substance: MESALAMINE
     Dosage: 6 DOSAGE FORM, 1 DOSE PER 1 D
  42. ASACOL [Suspect]
     Active Substance: MESALAMINE
  43. ASACOL [Suspect]
     Active Substance: MESALAMINE
  44. BUDESONIDE [Suspect]
     Active Substance: BUDESONIDE
     Dosage: 8 DOSAGE FORM; 1 EVERY 8 WEEK
  45. BUDESONIDE [Suspect]
     Active Substance: BUDESONIDE
     Dosage: 1 DOSAGE FORM  1 EVERY 1 DAYS
  46. BUDESONIDE [Suspect]
     Active Substance: BUDESONIDE
     Dosage: 1 DOSAGE FORM; 1 EVERY 8 WEEKS
  47. BUDESONIDE [Suspect]
     Active Substance: BUDESONIDE
  48. BUDESONIDE [Suspect]
     Active Substance: BUDESONIDE
  49. BUDESONIDE [Suspect]
     Active Substance: BUDESONIDE
  50. BUDESONIDE [Suspect]
     Active Substance: BUDESONIDE
     Dosage: UNK UNK, Q8W
  51. BUDESONIDE [Suspect]
     Active Substance: BUDESONIDE
     Dosage: 1 DOSAGE FORM, QD
  52. BUDESONIDE [Suspect]
     Active Substance: BUDESONIDE
     Dosage: 1 DOSAGE FORM, QD
  53. BUDESONIDE [Suspect]
     Active Substance: BUDESONIDE
     Dosage: 8 DOSAGE FORM, Q8WK
  54. BUDESONIDE [Suspect]
     Active Substance: BUDESONIDE
     Dosage: 8 DOSAGE FORM,  1 EVERY 1 DAYS
  55. AZD-1222 [Suspect]
     Active Substance: AZD-1222
     Indication: COVID-19 immunisation
     Route: 065
  56. AZD-1222 [Suspect]
     Active Substance: AZD-1222
     Indication: Adverse drug reaction
  57. AZD-1222 [Suspect]
     Active Substance: AZD-1222
  58. AZD-1222 [Suspect]
     Active Substance: AZD-1222
  59. AZD-1222 [Suspect]
     Active Substance: AZD-1222
  60. AZD-1222 [Suspect]
     Active Substance: AZD-1222
  61. AZD-1222 [Suspect]
     Active Substance: AZD-1222
  62. AZD-1222 [Suspect]
     Active Substance: AZD-1222
  63. AZD-1222 [Suspect]
     Active Substance: AZD-1222
  64. AZD-1222 [Suspect]
     Active Substance: AZD-1222
  65. AZD-1222 [Suspect]
     Active Substance: AZD-1222
  66. AZD-1222 [Suspect]
     Active Substance: AZD-1222
  67. AZD-1222 [Suspect]
     Active Substance: AZD-1222
  68. AZD-1222 [Suspect]
     Active Substance: AZD-1222
  69. AZD-1222 [Suspect]
     Active Substance: AZD-1222
  70. AZD-1222 [Suspect]
     Active Substance: AZD-1222
  71. AZD-1222 [Suspect]
     Active Substance: AZD-1222
  72. AZD-1222 [Suspect]
     Active Substance: AZD-1222
  73. AZD-1222 [Suspect]
     Active Substance: AZD-1222
  74. CORTIFOAM [Suspect]
     Active Substance: HYDROCORTISONE ACETATE
     Indication: Deep vein thrombosis
     Dosage: 1 DOSAGE FORM, 1 EVERY 1 DAYS
  75. CORTIFOAM [Suspect]
     Active Substance: HYDROCORTISONE ACETATE
     Indication: Colitis ulcerative
  76. CORTIFOAM [Suspect]
     Active Substance: HYDROCORTISONE ACETATE
     Indication: Colitis ulcerative
  77. CORTIFOAM [Suspect]
     Active Substance: HYDROCORTISONE ACETATE
  78. CORTIFOAM [Suspect]
     Active Substance: HYDROCORTISONE ACETATE
     Dosage: 1 DOSAGE FORM, 1 EVERY 1 DAYS
  79. CORTIFOAM [Suspect]
     Active Substance: HYDROCORTISONE ACETATE
     Dosage: UNK
  80. CORTIFOAM [Suspect]
     Active Substance: HYDROCORTISONE ACETATE
  81. CORTIFOAM [Suspect]
     Active Substance: HYDROCORTISONE ACETATE
  82. CORTIFOAM [Suspect]
     Active Substance: HYDROCORTISONE ACETATE
     Dosage: 8 DOSAGE FORM, Q8WK
  83. CORTIFOAM [Suspect]
     Active Substance: HYDROCORTISONE ACETATE
  84. CORTIFOAM [Suspect]
     Active Substance: HYDROCORTISONE ACETATE
  85. CORTIFOAM [Suspect]
     Active Substance: HYDROCORTISONE ACETATE
  86. CORTIFOAM [Suspect]
     Active Substance: HYDROCORTISONE ACETATE
  87. CORTIFOAM [Suspect]
     Active Substance: HYDROCORTISONE ACETATE
     Dosage: 1 DOSAGE FORM, 1 DOSE PER 1D
  88. CORTIFOAM [Suspect]
     Active Substance: HYDROCORTISONE ACETATE
     Dosage: 8 DOSAGE FORM, 1 DOSE PER 8W
  89. CORTIFOAM [Suspect]
     Active Substance: HYDROCORTISONE ACETATE
  90. CORTIFOAM [Suspect]
     Active Substance: HYDROCORTISONE ACETATE
  91. CORTIFOAM [Suspect]
     Active Substance: HYDROCORTISONE ACETATE
  92. CORTIFOAM [Suspect]
     Active Substance: HYDROCORTISONE ACETATE
  93. CORTIFOAM [Suspect]
     Active Substance: HYDROCORTISONE ACETATE
     Indication: Colitis ulcerative
  94. CORTISONE [Suspect]
     Active Substance: CORTISONE
     Indication: Crohn^s disease
     Dosage: 8 DOSAGE FORM,  1 EVERY 1 DAYS
  95. CORTISONE [Suspect]
     Active Substance: CORTISONE
     Indication: Colitis ulcerative
  96. CORTISONE [Suspect]
     Active Substance: CORTISONE
  97. CORTISONE [Suspect]
     Active Substance: CORTISONE
  98. CORTISONE [Suspect]
     Active Substance: CORTISONE
  99. CORTISONE [Suspect]
     Active Substance: CORTISONE
  100. CORTISONE [Suspect]
     Active Substance: CORTISONE
  101. CORTISONE [Suspect]
     Active Substance: CORTISONE
  102. CORTISONE [Suspect]
     Active Substance: CORTISONE
  103. CORTISONE [Suspect]
     Active Substance: CORTISONE
  104. CORTISONE [Suspect]
     Active Substance: CORTISONE
  105. CORTISONE [Suspect]
     Active Substance: CORTISONE
  106. CORTISONE [Suspect]
     Active Substance: CORTISONE
  107. ENTYVIO [Suspect]
     Active Substance: VEDOLIZUMAB
     Indication: Colitis ulcerative
     Dosage: 1 DOSAGE FORM,  1 EVERY 1 DAYS
  108. ENTYVIO [Suspect]
     Active Substance: VEDOLIZUMAB
     Indication: Deep vein thrombosis
  109. ENTYVIO [Suspect]
     Active Substance: VEDOLIZUMAB
     Indication: Product used for unknown indication
  110. ENTYVIO [Suspect]
     Active Substance: VEDOLIZUMAB
  111. ENTYVIO [Suspect]
     Active Substance: VEDOLIZUMAB
  112. ENTYVIO [Suspect]
     Active Substance: VEDOLIZUMAB
  113. ENTYVIO [Suspect]
     Active Substance: VEDOLIZUMAB
  114. ENTYVIO [Suspect]
     Active Substance: VEDOLIZUMAB
  115. ENTYVIO [Suspect]
     Active Substance: VEDOLIZUMAB
  116. ENTYVIO [Suspect]
     Active Substance: VEDOLIZUMAB
  117. ENTYVIO [Suspect]
     Active Substance: VEDOLIZUMAB
  118. ENTYVIO [Suspect]
     Active Substance: VEDOLIZUMAB
  119. ENTYVIO [Suspect]
     Active Substance: VEDOLIZUMAB
  120. ENTYVIO [Suspect]
     Active Substance: VEDOLIZUMAB
  121. ENTYVIO [Suspect]
     Active Substance: VEDOLIZUMAB
  122. ENTYVIO [Suspect]
     Active Substance: VEDOLIZUMAB
  123. ENTYVIO [Suspect]
     Active Substance: VEDOLIZUMAB
  124. EPINEPHRINE HYDROCHLORIDE [Suspect]
     Active Substance: EPINEPHRINE HYDROCHLORIDE
     Indication: Product used for unknown indication
     Route: 065
  125. EPINEPHRINE HYDROCHLORIDE [Suspect]
     Active Substance: EPINEPHRINE HYDROCHLORIDE
     Indication: Product used for unknown indication
  126. EPINEPHRINE HYDROCHLORIDE [Suspect]
     Active Substance: EPINEPHRINE HYDROCHLORIDE
  127. EPINEPHRINE HYDROCHLORIDE [Suspect]
     Active Substance: EPINEPHRINE HYDROCHLORIDE
  128. FELODIPINE [Suspect]
     Active Substance: FELODIPINE
     Indication: Hypertension
     Dosage: 5 MILLIGRAM, DAILY (2.5 MILLIGRAM, 2 DOSE PER 1 D)
  129. FELODIPINE [Suspect]
     Active Substance: FELODIPINE
  130. ESOMEPRAZOLE [Suspect]
     Active Substance: ESOMEPRAZOLE
     Indication: Gastritis
     Route: 065
  131. ESCITALOPRAM [Suspect]
     Active Substance: ESCITALOPRAM OXALATE
     Indication: Product used for unknown indication
     Route: 065
  132. FUROSEMIDE [Suspect]
     Active Substance: FUROSEMIDE
     Indication: Product used for unknown indication
     Route: 065
  133. FUROSEMIDE [Suspect]
     Active Substance: FUROSEMIDE
     Dosage: 20 MILLIGRAM
  134. FUROSEMIDE [Suspect]
     Active Substance: FUROSEMIDE
  135. FUROSEMIDE [Suspect]
     Active Substance: FUROSEMIDE
  136. GABAPENTIN [Suspect]
     Active Substance: GABAPENTIN
     Indication: Product used for unknown indication
     Dosage: 900 MILLIGRAM, DAILY (300 MILLIGRAM, 3 DOSE PER 1 D  )
     Route: 065
  137. GABAPENTIN [Suspect]
     Active Substance: GABAPENTIN
  138. GABAPENTIN [Suspect]
     Active Substance: GABAPENTIN
     Dosage: 900 MILLIGRAM, DAILY (300 MILLIGRAM, 3 DOSE PER 1 D  )
  139. GABAPENTIN [Suspect]
     Active Substance: GABAPENTIN
     Dosage: 900 MILLIGRAM, DAILY (300 MILLIGRAM, 3 DOSE PER 1 D  )
  140. GABAPENTIN [Suspect]
     Active Substance: GABAPENTIN
     Dosage: 900 MILLIGRAM, DAILY (300 MILLIGRAM, 3 DOSE PER 1 D  )
  141. GABAPENTIN [Suspect]
     Active Substance: GABAPENTIN
  142. HYDROCORTISONE [Suspect]
     Active Substance: HYDROCORTISONE
     Indication: Colitis ulcerative
     Dosage: 8 DOSAGE FORM, 1 EVERY 1 DAYS
  143. HYDROCORTISONE [Suspect]
     Active Substance: HYDROCORTISONE
  144. HYDROCORTISONE [Suspect]
     Active Substance: HYDROCORTISONE
     Dosage: 3 DOSAGE FORM;  2 EVERY 1 DAYS
  145. HYDROCORTISONE [Suspect]
     Active Substance: HYDROCORTISONE
  146. HYDROCORTISONE [Suspect]
     Active Substance: HYDROCORTISONE
     Dosage: 1 DOSAGE FORM  1 EVERY 1 DAYS
  147. HYDROCORTISONE [Suspect]
     Active Substance: HYDROCORTISONE
     Dosage: 1 EVERY 8 WEEKS
  148. HYDROCORTISONE [Suspect]
     Active Substance: HYDROCORTISONE
  149. HYDROCORTISONE [Suspect]
     Active Substance: HYDROCORTISONE
     Dosage: 1 DOSAGE FORM, QD
  150. INFLIXIMAB [Suspect]
     Active Substance: INFLIXIMAB
     Indication: Colitis ulcerative
  151. INFLIXIMAB [Suspect]
     Active Substance: INFLIXIMAB
     Indication: Crohn^s disease
  152. INFLIXIMAB [Suspect]
     Active Substance: INFLIXIMAB
     Indication: Product used for unknown indication
  153. INFLIXIMAB [Suspect]
     Active Substance: INFLIXIMAB
     Indication: Colitis ulcerative
  154. INFLIXIMAB [Suspect]
     Active Substance: INFLIXIMAB
  155. INFLIXIMAB [Suspect]
     Active Substance: INFLIXIMAB
  156. INFLIXIMAB [Suspect]
     Active Substance: INFLIXIMAB
  157. INFLIXIMAB [Suspect]
     Active Substance: INFLIXIMAB
  158. INFLIXIMAB [Suspect]
     Active Substance: INFLIXIMAB
  159. INFLIXIMAB [Suspect]
     Active Substance: INFLIXIMAB
  160. INFLIXIMAB [Suspect]
     Active Substance: INFLIXIMAB
  161. INFLIXIMAB [Suspect]
     Active Substance: INFLIXIMAB
     Dosage: 5 MILLIGRAM/KILOGRAM, Q8WK
  162. INFLIXIMAB [Suspect]
     Active Substance: INFLIXIMAB
  163. INFLIXIMAB [Suspect]
     Active Substance: INFLIXIMAB
  164. INFLIXIMAB [Suspect]
     Active Substance: INFLIXIMAB
  165. INFLIXIMAB [Suspect]
     Active Substance: INFLIXIMAB
  166. INFLIXIMAB [Suspect]
     Active Substance: INFLIXIMAB
  167. INFLIXIMAB [Suspect]
     Active Substance: INFLIXIMAB
  168. INFLIXIMAB [Suspect]
     Active Substance: INFLIXIMAB
  169. INFLIXIMAB [Suspect]
     Active Substance: INFLIXIMAB
  170. INFLIXIMAB [Suspect]
     Active Substance: INFLIXIMAB
  171. INFLIXIMAB [Suspect]
     Active Substance: INFLIXIMAB
  172. INFLIXIMAB [Suspect]
     Active Substance: INFLIXIMAB
  173. INFLIXIMAB [Suspect]
     Active Substance: INFLIXIMAB
  174. INFLIXIMAB [Suspect]
     Active Substance: INFLIXIMAB
     Dosage: 5 MILLIGRAM/KILOGRAM, 1 DOSE PER 8W
  175. INFLIXIMAB [Suspect]
     Active Substance: INFLIXIMAB
  176. INFLIXIMAB [Suspect]
     Active Substance: INFLIXIMAB
  177. INFLIXIMAB [Suspect]
     Active Substance: INFLIXIMAB
     Dosage: 5 MILLIGRAM/KILOGRAM, 1 DOSE PER 8W
  178. INFLIXIMAB [Suspect]
     Active Substance: INFLIXIMAB
     Dosage: 7 MILLIGRAM/KILOGRAM, 1 DOSE PER 8W
  179. INFLIXIMAB [Suspect]
     Active Substance: INFLIXIMAB
     Dosage: 7 MILLIGRAM/KILOGRAM, 1 DOSE PER 8W
  180. INFLIXIMAB [Suspect]
     Active Substance: INFLIXIMAB
  181. INFLIXIMAB [Suspect]
     Active Substance: INFLIXIMAB
  182. INFLIXIMAB [Suspect]
     Active Substance: INFLIXIMAB
  183. INFLIXIMAB [Suspect]
     Active Substance: INFLIXIMAB
  184. INFLIXIMAB [Suspect]
     Active Substance: INFLIXIMAB
  185. INFLIXIMAB [Suspect]
     Active Substance: INFLIXIMAB
     Dosage: 120 MILLIGRAM, 1 DOSE PER 8W
  186. INFLIXIMAB [Suspect]
     Active Substance: INFLIXIMAB
     Dosage: 8 DOSAGE FORM, 1 DOSE PER 8W
  187. INFLIXIMAB [Suspect]
     Active Substance: INFLIXIMAB
  188. INFLIXIMAB [Suspect]
     Active Substance: INFLIXIMAB
  189. INFLIXIMAB [Suspect]
     Active Substance: INFLIXIMAB
  190. INFLIXIMAB [Suspect]
     Active Substance: INFLIXIMAB
  191. INFLIXIMAB [Suspect]
     Active Substance: INFLIXIMAB
  192. INFLIXIMAB [Suspect]
     Active Substance: INFLIXIMAB
  193. INFLIXIMAB [Suspect]
     Active Substance: INFLIXIMAB
  194. INFLIXIMAB [Suspect]
     Active Substance: INFLIXIMAB
  195. INFLIXIMAB [Suspect]
     Active Substance: INFLIXIMAB
  196. INFLIXIMAB [Suspect]
     Active Substance: INFLIXIMAB
  197. INFLIXIMAB [Suspect]
     Active Substance: INFLIXIMAB
  198. INFLIXIMAB [Suspect]
     Active Substance: INFLIXIMAB
  199. INFLIXIMAB [Suspect]
     Active Substance: INFLIXIMAB
  200. INFLIXIMAB [Suspect]
     Active Substance: INFLIXIMAB
  201. INFLIXIMAB [Suspect]
     Active Substance: INFLIXIMAB
  202. INFLIXIMAB [Suspect]
     Active Substance: INFLIXIMAB
  203. INFLIXIMAB [Suspect]
     Active Substance: INFLIXIMAB
  204. INFLIXIMAB [Suspect]
     Active Substance: INFLIXIMAB
  205. INFLIXIMAB [Suspect]
     Active Substance: INFLIXIMAB
  206. INFLIXIMAB [Suspect]
     Active Substance: INFLIXIMAB
  207. INFLIXIMAB [Suspect]
     Active Substance: INFLIXIMAB
  208. INFLIXIMAB [Suspect]
     Active Substance: INFLIXIMAB
  209. INFLIXIMAB [Suspect]
     Active Substance: INFLIXIMAB
  210. INFLIXIMAB [Suspect]
     Active Substance: INFLIXIMAB
  211. INFLIXIMAB [Suspect]
     Active Substance: INFLIXIMAB
  212. INFLIXIMAB [Suspect]
     Active Substance: INFLIXIMAB
  213. INFLIXIMAB [Suspect]
     Active Substance: INFLIXIMAB
  214. INFLIXIMAB [Suspect]
     Active Substance: INFLIXIMAB
  215. INFLIXIMAB [Suspect]
     Active Substance: INFLIXIMAB
  216. INFLIXIMAB [Suspect]
     Active Substance: INFLIXIMAB
  217. INFLIXIMAB [Suspect]
     Active Substance: INFLIXIMAB
  218. INFLIXIMAB [Suspect]
     Active Substance: INFLIXIMAB
  219. INFLIXIMAB [Suspect]
     Active Substance: INFLIXIMAB
  220. INFLIXIMAB [Suspect]
     Active Substance: INFLIXIMAB
  221. INFLIXIMAB [Suspect]
     Active Substance: INFLIXIMAB
  222. INFLIXIMAB [Suspect]
     Active Substance: INFLIXIMAB
  223. INFLIXIMAB [Suspect]
     Active Substance: INFLIXIMAB
  224. INFLIXIMAB [Suspect]
     Active Substance: INFLIXIMAB
  225. INFLIXIMAB [Suspect]
     Active Substance: INFLIXIMAB
  226. INFLIXIMAB [Suspect]
     Active Substance: INFLIXIMAB
  227. INFLIXIMAB [Suspect]
     Active Substance: INFLIXIMAB
  228. INFLIXIMAB [Suspect]
     Active Substance: INFLIXIMAB
  229. INFLIXIMAB [Suspect]
     Active Substance: INFLIXIMAB
  230. INFLIXIMAB [Suspect]
     Active Substance: INFLIXIMAB
  231. INFLIXIMAB [Suspect]
     Active Substance: INFLIXIMAB
  232. INFLIXIMAB [Suspect]
     Active Substance: INFLIXIMAB
  233. INFLIXIMAB [Suspect]
     Active Substance: INFLIXIMAB
  234. INFLIXIMAB [Suspect]
     Active Substance: INFLIXIMAB
  235. INFLIXIMAB [Suspect]
     Active Substance: INFLIXIMAB
  236. INFLIXIMAB [Suspect]
     Active Substance: INFLIXIMAB
  237. INFLIXIMAB [Suspect]
     Active Substance: INFLIXIMAB
  238. LEVOTHYROXINE SODIUM [Suspect]
     Active Substance: LEVOTHYROXINE SODIUM
     Indication: Product used for unknown indication
     Route: 065
  239. LEVOTHYROXINE SODIUM [Suspect]
     Active Substance: LEVOTHYROXINE SODIUM
     Dosage: 100 MILLIGRAM
  240. LEVOTHYROXINE SODIUM [Suspect]
     Active Substance: LEVOTHYROXINE SODIUM
  241. LEVOTHYROXINE SODIUM [Suspect]
     Active Substance: LEVOTHYROXINE SODIUM
  242. MEBEVERINE HYDROCHLORIDE [Suspect]
     Active Substance: MEBEVERINE HYDROCHLORIDE
     Indication: Product used for unknown indication
     Route: 065
  243. MEBEVERINE HYDROCHLORIDE [Suspect]
     Active Substance: MEBEVERINE HYDROCHLORIDE
  244. MEBEVERINE HYDROCHLORIDE [Suspect]
     Active Substance: MEBEVERINE HYDROCHLORIDE
  245. MEBEVERINE HYDROCHLORIDE [Suspect]
     Active Substance: MEBEVERINE HYDROCHLORIDE
     Dosage: 200 MILLIGRAM, 2 DOSE PER 1 D
  246. MEBEVERINE HYDROCHLORIDE [Suspect]
     Active Substance: MEBEVERINE HYDROCHLORIDE
  247. MEBEVERINE HYDROCHLORIDE [Suspect]
     Active Substance: MEBEVERINE HYDROCHLORIDE
  248. MEBEVERINE HYDROCHLORIDE [Suspect]
     Active Substance: MEBEVERINE HYDROCHLORIDE
  249. MEBEVERINE HYDROCHLORIDE [Suspect]
     Active Substance: MEBEVERINE HYDROCHLORIDE
  250. MEBEVERINE HYDROCHLORIDE [Suspect]
     Active Substance: MEBEVERINE HYDROCHLORIDE
  251. MEBEVERINE HYDROCHLORIDE [Suspect]
     Active Substance: MEBEVERINE HYDROCHLORIDE
  252. MESALAMINE [Suspect]
     Active Substance: MESALAMINE
     Indication: Colitis ulcerative
     Dosage: 3 DOSAGE FORM,  2 EVERY 1 DAYS
     Route: 065
  253. MESALAMINE [Suspect]
     Active Substance: MESALAMINE
     Indication: Product used for unknown indication
  254. MESALAMINE [Suspect]
     Active Substance: MESALAMINE
  255. MESALAMINE [Suspect]
     Active Substance: MESALAMINE
  256. MESALAMINE [Suspect]
     Active Substance: MESALAMINE
     Dosage: 8 DOSAGE FORM; 1 EVERY 8 WEEKS
  257. MESALAMINE [Suspect]
     Active Substance: MESALAMINE
     Dosage: 4.8 MILLIGRAM,  1 EVERY 1 DAYS
  258. MESALAMINE [Suspect]
     Active Substance: MESALAMINE
     Dosage: 1 DOSAGE FORM,  1 EVERY 1 DAYS
  259. MESALAMINE [Suspect]
     Active Substance: MESALAMINE
  260. MESALAMINE [Suspect]
     Active Substance: MESALAMINE
     Dosage: 3 DOSAGE FORM,  2 EVERY 1 DAYS
  261. MESALAMINE [Suspect]
     Active Substance: MESALAMINE
     Dosage: 3 DOSAGE FORM,  2 EVERY 1 DAYS
  262. MESALAMINE [Suspect]
     Active Substance: MESALAMINE
     Dosage: 2.4 GRAM,  1 EVERY 1 DAYS
  263. MESALAMINE [Suspect]
     Active Substance: MESALAMINE
     Dosage: 2.4 GRAM,  1 EVERY 1 DAYS
  264. MESALAMINE [Suspect]
     Active Substance: MESALAMINE
     Dosage: 3 GRAM,  1 EVERY 1 DAYS
  265. MESALAMINE [Suspect]
     Active Substance: MESALAMINE
     Dosage: 3 DOSAGE FORM,  2 EVERY 1 DAYS
  266. MESALAMINE [Suspect]
     Active Substance: MESALAMINE
  267. MESALAMINE [Suspect]
     Active Substance: MESALAMINE
  268. MESALAMINE [Suspect]
     Active Substance: MESALAMINE
     Dosage: 8 DOSAGE FORM; 1 EVERY 8 WEEKS
  269. MESALAMINE [Suspect]
     Active Substance: MESALAMINE
  270. MESALAMINE [Suspect]
     Active Substance: MESALAMINE
  271. MESALAMINE [Suspect]
     Active Substance: MESALAMINE
  272. MESALAMINE [Suspect]
     Active Substance: MESALAMINE
  273. MESALAMINE [Suspect]
     Active Substance: MESALAMINE
  274. MESALAMINE [Suspect]
     Active Substance: MESALAMINE
  275. MESALAMINE [Suspect]
     Active Substance: MESALAMINE
  276. MESALAMINE [Suspect]
     Active Substance: MESALAMINE
  277. MESALAMINE [Suspect]
     Active Substance: MESALAMINE
  278. MESALAMINE [Suspect]
     Active Substance: MESALAMINE
  279. MESALAMINE [Suspect]
     Active Substance: MESALAMINE
  280. MESALAMINE [Suspect]
     Active Substance: MESALAMINE
  281. MESALAMINE [Suspect]
     Active Substance: MESALAMINE
  282. MESALAMINE [Suspect]
     Active Substance: MESALAMINE
  283. MESALAMINE [Suspect]
     Active Substance: MESALAMINE
  284. MESALAMINE [Suspect]
     Active Substance: MESALAMINE
  285. MESALAMINE [Suspect]
     Active Substance: MESALAMINE
  286. MESALAMINE [Suspect]
     Active Substance: MESALAMINE
  287. MESALAMINE [Suspect]
     Active Substance: MESALAMINE
  288. MESALAMINE [Suspect]
     Active Substance: MESALAMINE
  289. MESALAMINE [Suspect]
     Active Substance: MESALAMINE
  290. MESALAMINE [Suspect]
     Active Substance: MESALAMINE
     Dosage: 4.8 MILLIGRAM,  1 EVERY 1 DAYS
  291. MESALAMINE [Suspect]
     Active Substance: MESALAMINE
  292. MESALAMINE [Suspect]
     Active Substance: MESALAMINE
  293. MESALAMINE [Suspect]
     Active Substance: MESALAMINE
     Dosage: 4.8 MILLIGRAM, 1 DOSE PER 1D
  294. MESALAMINE [Suspect]
     Active Substance: MESALAMINE
  295. MESALAMINE [Suspect]
     Active Substance: MESALAMINE
  296. MESALAMINE [Suspect]
     Active Substance: MESALAMINE
  297. MESALAMINE [Suspect]
     Active Substance: MESALAMINE
  298. MESALAMINE [Suspect]
     Active Substance: MESALAMINE
  299. MESALAMINE [Suspect]
     Active Substance: MESALAMINE
  300. MESALAMINE [Suspect]
     Active Substance: MESALAMINE
  301. MESALAMINE [Suspect]
     Active Substance: MESALAMINE
  302. MESALAMINE [Suspect]
     Active Substance: MESALAMINE
  303. MESALAMINE [Suspect]
     Active Substance: MESALAMINE
  304. MESALAMINE [Suspect]
     Active Substance: MESALAMINE
  305. MESALAMINE [Suspect]
     Active Substance: MESALAMINE
  306. MESALAMINE [Suspect]
     Active Substance: MESALAMINE
  307. MESALAMINE [Suspect]
     Active Substance: MESALAMINE
  308. MESALAMINE [Suspect]
     Active Substance: MESALAMINE
  309. MESALAMINE [Suspect]
     Active Substance: MESALAMINE
  310. MESALAMINE [Suspect]
     Active Substance: MESALAMINE
  311. MESALAMINE [Suspect]
     Active Substance: MESALAMINE
  312. MESALAMINE [Suspect]
     Active Substance: MESALAMINE
  313. MESALAMINE [Suspect]
     Active Substance: MESALAMINE
  314. MESALAMINE [Suspect]
     Active Substance: MESALAMINE
  315. MESALAMINE [Suspect]
     Active Substance: MESALAMINE
  316. MESALAMINE [Suspect]
     Active Substance: MESALAMINE
  317. MESALAMINE [Suspect]
     Active Substance: MESALAMINE
  318. MESALAMINE [Suspect]
     Active Substance: MESALAMINE
  319. MESALAMINE [Suspect]
     Active Substance: MESALAMINE
  320. MESALAMINE [Suspect]
     Active Substance: MESALAMINE
     Dosage: 3 DOSAGE FORM,  2 EVERY 1 DAYS
  321. MESALAMINE [Suspect]
     Active Substance: MESALAMINE
     Dosage: 3 DOSAGE FORM,  2 EVERY 1 DAYS
  322. MESALAMINE [Suspect]
     Active Substance: MESALAMINE
     Dosage: 3 DOSAGE FORM,  2 EVERY 1 DAYS
  323. MESALAMINE [Suspect]
     Active Substance: MESALAMINE
  324. MESALAMINE [Suspect]
     Active Substance: MESALAMINE
     Dosage: 1 DOSAGE FORM,  1 EVERY 1 DAYS
  325. MESALAMINE [Suspect]
     Active Substance: MESALAMINE
     Dosage: 1 DOSAGE FORM,  1 EVERY 1 DAYS
  326. MESALAMINE [Suspect]
     Active Substance: MESALAMINE
     Dosage: 1 DOSAGE FORM,  1 EVERY 1 DAYS
  327. MESALAMINE [Suspect]
     Active Substance: MESALAMINE
  328. MESALAMINE [Suspect]
     Active Substance: MESALAMINE
  329. MESALAMINE [Suspect]
     Active Substance: MESALAMINE
  330. MESALAMINE [Suspect]
     Active Substance: MESALAMINE
  331. MESALAMINE [Suspect]
     Active Substance: MESALAMINE
     Dosage: 3 DOSAGE FORM,  2 EVERY 1 DAYS
  332. MESALAMINE [Suspect]
     Active Substance: MESALAMINE
     Dosage: 2.4 GRAM,  1 EVERY 1 DAYS
  333. MESALAMINE [Suspect]
     Active Substance: MESALAMINE
     Dosage: 2.4 GRAM,  1 EVERY 1 DAYS
  334. MESALAMINE [Suspect]
     Active Substance: MESALAMINE
     Dosage: 3 GRAM,  1 EVERY 1 DAYS
  335. MESALAMINE [Suspect]
     Active Substance: MESALAMINE
     Dosage: 6 DOSAGE FORM,  1 EVERY 1 DAYS
  336. MESALAMINE [Suspect]
     Active Substance: MESALAMINE
     Dosage: 6 DOSAGE FORM,  1 EVERY 1 DAYS
  337. MESALAMINE [Suspect]
     Active Substance: MESALAMINE
     Dosage: 6 DOSAGE FORM,  1 EVERY 1 DAYS
  338. MESALAMINE [Suspect]
     Active Substance: MESALAMINE
     Dosage: 6 DOSAGE FORM,  1 EVERY 1 DAYS
  339. MESALAMINE [Suspect]
     Active Substance: MESALAMINE
  340. MESALAMINE [Suspect]
     Active Substance: MESALAMINE
  341. MESALAMINE [Suspect]
     Active Substance: MESALAMINE
  342. MESALAMINE [Suspect]
     Active Substance: MESALAMINE
  343. MESALAMINE [Suspect]
     Active Substance: MESALAMINE
  344. MESALAMINE [Suspect]
     Active Substance: MESALAMINE
  345. MESALAMINE [Suspect]
     Active Substance: MESALAMINE
  346. MESALAMINE [Suspect]
     Active Substance: MESALAMINE
  347. MESALAMINE [Suspect]
     Active Substance: MESALAMINE
  348. MESALAMINE [Suspect]
     Active Substance: MESALAMINE
  349. MESALAMINE [Suspect]
     Active Substance: MESALAMINE
  350. MESALAMINE [Suspect]
     Active Substance: MESALAMINE
  351. MESALAMINE [Suspect]
     Active Substance: MESALAMINE
  352. MESALAMINE [Suspect]
     Active Substance: MESALAMINE
  353. MESALAMINE [Suspect]
     Active Substance: MESALAMINE
  354. MESALAMINE [Suspect]
     Active Substance: MESALAMINE
  355. MESALAMINE [Suspect]
     Active Substance: MESALAMINE
  356. MESALAMINE [Suspect]
     Active Substance: MESALAMINE
  357. MESALAMINE [Suspect]
     Active Substance: MESALAMINE
  358. MESALAMINE [Suspect]
     Active Substance: MESALAMINE
  359. MESALAMINE [Suspect]
     Active Substance: MESALAMINE
  360. MESALAMINE [Suspect]
     Active Substance: MESALAMINE
  361. MESALAMINE [Suspect]
     Active Substance: MESALAMINE
  362. MESALAMINE [Suspect]
     Active Substance: MESALAMINE
  363. MESALAMINE [Suspect]
     Active Substance: MESALAMINE
  364. MESALAMINE [Suspect]
     Active Substance: MESALAMINE
  365. MESALAMINE [Suspect]
     Active Substance: MESALAMINE
  366. MESALAMINE [Suspect]
     Active Substance: MESALAMINE
  367. MESALAMINE [Suspect]
     Active Substance: MESALAMINE
  368. METFORMIN [Suspect]
     Active Substance: METFORMIN HYDROCHLORIDE
     Indication: Product used for unknown indication
     Route: 065
  369. OMEPRAZOLE [Suspect]
     Active Substance: OMEPRAZOLE
     Indication: Gastritis
     Route: 065
  370. PARA-AMINOSALICYLIC ACID [Suspect]
     Active Substance: AMINOSALICYLIC ACID
     Indication: Product used for unknown indication
  371. PARA-AMINOSALICYLIC ACID [Suspect]
     Active Substance: AMINOSALICYLIC ACID
  372. PARA-AMINOSALICYLIC ACID [Suspect]
     Active Substance: AMINOSALICYLIC ACID
  373. PARA-AMINOSALICYLIC ACID [Suspect]
     Active Substance: AMINOSALICYLIC ACID
  374. PARA-AMINOSALICYLIC ACID [Suspect]
     Active Substance: AMINOSALICYLIC ACID
  375. PARA-AMINOSALICYLIC ACID [Suspect]
     Active Substance: AMINOSALICYLIC ACID
  376. PARA-AMINOSALICYLIC ACID [Suspect]
     Active Substance: AMINOSALICYLIC ACID
  377. PARA-AMINOSALICYLIC ACID [Suspect]
     Active Substance: AMINOSALICYLIC ACID
  378. TOZINAMERAN [Suspect]
     Active Substance: TOZINAMERAN
     Indication: Product used for unknown indication
     Route: 065
  379. TOZINAMERAN [Suspect]
     Active Substance: TOZINAMERAN
  380. TOZINAMERAN [Suspect]
     Active Substance: TOZINAMERAN
  381. TOZINAMERAN [Suspect]
     Active Substance: TOZINAMERAN
  382. CANDESARTAN [Suspect]
     Active Substance: CANDESARTAN
     Indication: Product used for unknown indication
  383. CANDESARTAN [Suspect]
     Active Substance: CANDESARTAN
     Indication: Product used for unknown indication
  384. CANDESARTAN [Suspect]
     Active Substance: CANDESARTAN
  385. CANDESARTAN [Suspect]
     Active Substance: CANDESARTAN
  386. PREDNISONE [Suspect]
     Active Substance: PREDNISONE
     Indication: Colitis ulcerative
     Route: 065
  387. PREDNISONE [Suspect]
     Active Substance: PREDNISONE
     Dosage: 50 MILLIGRAM,  1 EVERY 1 DAYS
  388. PREDNISONE [Suspect]
     Active Substance: PREDNISONE
     Dosage: 40 MILLIGRAM,  1 EVERY 1 DAYS
  389. PREDNISONE [Suspect]
     Active Substance: PREDNISONE
  390. PREDNISONE [Suspect]
     Active Substance: PREDNISONE
  391. PREDNISONE [Suspect]
     Active Substance: PREDNISONE
  392. PREDNISONE [Suspect]
     Active Substance: PREDNISONE
  393. CHOLECALCIFEROL [Suspect]
     Active Substance: CHOLECALCIFEROL
     Indication: Product used for unknown indication
     Route: 065
  394. CHOLECALCIFEROL [Suspect]
     Active Substance: CHOLECALCIFEROL
     Indication: Product used for unknown indication
  395. CHOLECALCIFEROL [Suspect]
     Active Substance: CHOLECALCIFEROL
  396. CHOLECALCIFEROL [Suspect]
     Active Substance: CHOLECALCIFEROL
  397. WARFARIN SODIUM [Suspect]
     Active Substance: WARFARIN SODIUM
     Indication: Deep vein thrombosis
  398. WARFARIN SODIUM [Suspect]
     Active Substance: WARFARIN SODIUM
     Indication: Colitis ulcerative
     Dosage: 8 DOSAGE FORM, Q8WK
  399. WARFARIN SODIUM [Suspect]
     Active Substance: WARFARIN SODIUM
     Indication: Colitis ulcerative
  400. WARFARIN SODIUM [Suspect]
     Active Substance: WARFARIN SODIUM
  401. WARFARIN SODIUM [Suspect]
     Active Substance: WARFARIN SODIUM
  402. WARFARIN SODIUM [Suspect]
     Active Substance: WARFARIN SODIUM
  403. WARFARIN SODIUM [Suspect]
     Active Substance: WARFARIN SODIUM
  404. WARFARIN SODIUM [Suspect]
     Active Substance: WARFARIN SODIUM
  405. WARFARIN SODIUM [Suspect]
     Active Substance: WARFARIN SODIUM
  406. WARFARIN SODIUM [Suspect]
     Active Substance: WARFARIN SODIUM
  407. WARFARIN SODIUM [Suspect]
     Active Substance: WARFARIN SODIUM
  408. WARFARIN SODIUM [Suspect]
     Active Substance: WARFARIN SODIUM
     Dosage: 8 DOSAGE FORM, Q8WK
  409. WARFARIN SODIUM [Suspect]
     Active Substance: WARFARIN SODIUM
     Dosage: 8 DOSAGE FORM, Q8WK
  410. WARFARIN SODIUM [Suspect]
     Active Substance: WARFARIN SODIUM
     Dosage: 8 DOSAGE FORM, Q8WK
  411. WARFARIN SODIUM [Suspect]
     Active Substance: WARFARIN SODIUM
  412. WARFARIN SODIUM [Suspect]
     Active Substance: WARFARIN SODIUM
  413. VEDOLIZUMAB [Suspect]
     Active Substance: VEDOLIZUMAB
     Indication: Deep vein thrombosis
  414. VEDOLIZUMAB [Suspect]
     Active Substance: VEDOLIZUMAB
     Indication: Colitis ulcerative
     Dosage: 1 DOSAGE FORM, QD
  415. CRESTOR [Suspect]
     Active Substance: ROSUVASTATIN CALCIUM
     Indication: Ill-defined disorder
     Route: 065
  416. CRESTOR [Suspect]
     Active Substance: ROSUVASTATIN CALCIUM
     Indication: Blood cholesterol increased
  417. CRESTOR [Suspect]
     Active Substance: ROSUVASTATIN CALCIUM
  418. CRESTOR [Suspect]
     Active Substance: ROSUVASTATIN CALCIUM
  419. SULFASALAZINE [Suspect]
     Active Substance: SULFASALAZINE
     Indication: Colitis ulcerative
     Route: 065
  420. SULFASALAZINE [Suspect]
     Active Substance: SULFASALAZINE
     Indication: Product used for unknown indication
  421. SULFASALAZINE [Suspect]
     Active Substance: SULFASALAZINE
     Indication: Arthritis
  422. SULFASALAZINE [Suspect]
     Active Substance: SULFASALAZINE
     Indication: Colitis ulcerative
     Dosage: 5 MILLIGRAM,  1 EVERY 1 DAYS
  423. SULFASALAZINE [Suspect]
     Active Substance: SULFASALAZINE
  424. SULFASALAZINE [Suspect]
     Active Substance: SULFASALAZINE
     Dosage: 3 MILLIGRAM,  1 EVERY 1 DAYS
  425. SULFASALAZINE [Suspect]
     Active Substance: SULFASALAZINE
  426. SULFASALAZINE [Suspect]
     Active Substance: SULFASALAZINE
  427. SULFASALAZINE [Suspect]
     Active Substance: SULFASALAZINE
  428. SULFASALAZINE [Suspect]
     Active Substance: SULFASALAZINE
  429. SULFASALAZINE [Suspect]
     Active Substance: SULFASALAZINE
  430. SULFASALAZINE [Suspect]
     Active Substance: SULFASALAZINE
  431. SULFASALAZINE [Suspect]
     Active Substance: SULFASALAZINE
  432. SULFASALAZINE [Suspect]
     Active Substance: SULFASALAZINE
  433. SULFASALAZINE [Suspect]
     Active Substance: SULFASALAZINE
  434. SULFASALAZINE [Suspect]
     Active Substance: SULFASALAZINE
  435. SULFASALAZINE [Suspect]
     Active Substance: SULFASALAZINE
  436. SULFASALAZINE [Suspect]
     Active Substance: SULFASALAZINE
  437. SULFASALAZINE [Suspect]
     Active Substance: SULFASALAZINE
  438. SULFASALAZINE [Suspect]
     Active Substance: SULFASALAZINE
  439. SULFASALAZINE [Suspect]
     Active Substance: SULFASALAZINE
  440. SULFASALAZINE [Suspect]
     Active Substance: SULFASALAZINE
  441. SULFASALAZINE [Suspect]
     Active Substance: SULFASALAZINE
  442. SULFASALAZINE [Suspect]
     Active Substance: SULFASALAZINE
  443. SULFASALAZINE [Suspect]
     Active Substance: SULFASALAZINE
  444. SULFASALAZINE [Suspect]
     Active Substance: SULFASALAZINE
  445. SULFASALAZINE [Suspect]
     Active Substance: SULFASALAZINE
  446. SULFASALAZINE [Suspect]
     Active Substance: SULFASALAZINE
  447. SULFASALAZINE [Suspect]
     Active Substance: SULFASALAZINE
  448. SULFASALAZINE [Suspect]
     Active Substance: SULFASALAZINE
  449. SULFASALAZINE [Suspect]
     Active Substance: SULFASALAZINE
  450. SULFASALAZINE [Suspect]
     Active Substance: SULFASALAZINE
  451. SULFASALAZINE [Suspect]
     Active Substance: SULFASALAZINE
     Dosage: 5 MILLIGRAM,  1 EVERY 1 DAYS
  452. SULFASALAZINE [Suspect]
     Active Substance: SULFASALAZINE
     Dosage: 5 MILLIGRAM,  1 EVERY 1 DAYS
  453. SULFASALAZINE [Suspect]
     Active Substance: SULFASALAZINE
     Dosage: 5 MILLIGRAM,  1 EVERY 1 DAYS
  454. SULFASALAZINE [Suspect]
     Active Substance: SULFASALAZINE
  455. SULFASALAZINE [Suspect]
     Active Substance: SULFASALAZINE
  456. SULFASALAZINE [Suspect]
     Active Substance: SULFASALAZINE
     Dosage: 3 MILLIGRAM,  1 EVERY 1 DAYS
  457. SULFASALAZINE [Suspect]
     Active Substance: SULFASALAZINE
     Dosage: 3 MILLIGRAM,  1 EVERY 1 DAYS
  458. SULFASALAZINE [Suspect]
     Active Substance: SULFASALAZINE
     Dosage: 3 MILLIGRAM,  1 EVERY 1 DAYS
  459. SULFASALAZINE [Suspect]
     Active Substance: SULFASALAZINE
  460. SULFASALAZINE [Suspect]
     Active Substance: SULFASALAZINE
  461. SULFASALAZINE [Suspect]
     Active Substance: SULFASALAZINE
  462. SULFASALAZINE [Suspect]
     Active Substance: SULFASALAZINE
  463. SULFASALAZINE [Suspect]
     Active Substance: SULFASALAZINE
  464. SULFASALAZINE [Suspect]
     Active Substance: SULFASALAZINE
  465. SULFASALAZINE [Suspect]
     Active Substance: SULFASALAZINE
  466. SULFASALAZINE [Suspect]
     Active Substance: SULFASALAZINE
  467. LISDEXAMFETAMINE DIMESYLATE [Suspect]
     Active Substance: LISDEXAMFETAMINE DIMESYLATE
     Indication: Product used for unknown indication
     Route: 065
  468. LISDEXAMFETAMINE DIMESYLATE [Suspect]
     Active Substance: LISDEXAMFETAMINE DIMESYLATE
     Indication: Product used for unknown indication
  469. LISDEXAMFETAMINE DIMESYLATE [Suspect]
     Active Substance: LISDEXAMFETAMINE DIMESYLATE
  470. LISDEXAMFETAMINE DIMESYLATE [Suspect]
     Active Substance: LISDEXAMFETAMINE DIMESYLATE
  471. LISDEXAMFETAMINE DIMESYLATE [Suspect]
     Active Substance: LISDEXAMFETAMINE DIMESYLATE
  472. LISDEXAMFETAMINE DIMESYLATE [Suspect]
     Active Substance: LISDEXAMFETAMINE DIMESYLATE
  473. LISDEXAMFETAMINE DIMESYLATE [Suspect]
     Active Substance: LISDEXAMFETAMINE DIMESYLATE
  474. HYDROCORTISONE ACETATE [Suspect]
     Active Substance: HYDROCORTISONE ACETATE
     Indication: Product used for unknown indication
  475. HYDROCORTISONE ACETATE [Suspect]
     Active Substance: HYDROCORTISONE ACETATE
     Indication: Colitis ulcerative
  476. HYDROCORTISONE ACETATE [Suspect]
     Active Substance: HYDROCORTISONE ACETATE
  477. HYDROCORTISONE ACETATE [Suspect]
     Active Substance: HYDROCORTISONE ACETATE
     Dosage: 1 DOSAGE FORM, 1 DOSE PER 1D
  478. HYDROCORTISONE ACETATE [Suspect]
     Active Substance: HYDROCORTISONE ACETATE
     Dosage: 1 DOSAGE FORM, 1 DOSE PER 1D
  479. HYDROCORTISONE ACETATE [Suspect]
     Active Substance: HYDROCORTISONE ACETATE
     Dosage: 1 DOSAGE FORM, 1 DOSE PER 1D
  480. HYDROCORTISONE ACETATE [Suspect]
     Active Substance: HYDROCORTISONE ACETATE
     Dosage: 8 DOSAGE FORM, 1 DOSE PER 8W
  481. HYDROCORTISONE ACETATE [Suspect]
     Active Substance: HYDROCORTISONE ACETATE
     Dosage: 8 DOSAGE FORM, 1 DOSE PER 8W
  482. HYDROCORTISONE ACETATE [Suspect]
     Active Substance: HYDROCORTISONE ACETATE
  483. HYDROCORTISONE ACETATE [Suspect]
     Active Substance: HYDROCORTISONE ACETATE
  484. HYDROCORTISONE ACETATE [Suspect]
     Active Substance: HYDROCORTISONE ACETATE
  485. HYDROCORTISONE ACETATE [Suspect]
     Active Substance: HYDROCORTISONE ACETATE
     Dosage: 8 DOSAGE FORM, 1 DOSE PER 1 D
  486. HYDROCORTISONE ACETATE [Suspect]
     Active Substance: HYDROCORTISONE ACETATE
  487. HYDROCORTISONE ACETATE [Suspect]
     Active Substance: HYDROCORTISONE ACETATE
  488. HYDROCORTISONE ACETATE [Suspect]
     Active Substance: HYDROCORTISONE ACETATE
  489. WARFARIN [Suspect]
     Active Substance: WARFARIN
     Indication: Deep vein thrombosis
     Route: 065
  490. ASPIRIN [Suspect]
     Active Substance: ASPIRIN
     Indication: Product used for unknown indication
     Route: 065
  491. MESALAMINE [Suspect]
     Active Substance: MESALAMINE
     Indication: Colitis ulcerative
  492. MESALAMINE [Suspect]
     Active Substance: MESALAMINE
     Indication: Colitis ulcerative
  493. MESALAMINE [Suspect]
     Active Substance: MESALAMINE
  494. MESALAMINE [Suspect]
     Active Substance: MESALAMINE
  495. MESALAMINE [Suspect]
     Active Substance: MESALAMINE
  496. MESALAMINE [Suspect]
     Active Substance: MESALAMINE
  497. MESALAMINE [Suspect]
     Active Substance: MESALAMINE
  498. MESALAMINE [Suspect]
     Active Substance: MESALAMINE
  499. MESALAMINE [Suspect]
     Active Substance: MESALAMINE
  500. MESALAMINE [Suspect]
     Active Substance: MESALAMINE
  501. MESALAMINE [Suspect]
     Active Substance: MESALAMINE
  502. MESALAMINE [Suspect]
     Active Substance: MESALAMINE
  503. MESALAMINE [Suspect]
     Active Substance: MESALAMINE
     Indication: Colitis ulcerative
     Route: 065
  504. MESALAMINE [Suspect]
     Active Substance: MESALAMINE
     Indication: Product used for unknown indication
  505. MESALAMINE [Suspect]
     Active Substance: MESALAMINE
     Indication: Colitis ulcerative
  506. MESALAMINE [Suspect]
     Active Substance: MESALAMINE
     Dosage: 6 DOSAGE FORM, QD
  507. MESALAMINE [Suspect]
     Active Substance: MESALAMINE
     Dosage: 3 DOSAGE FORM, BID
  508. MESALAMINE [Suspect]
     Active Substance: MESALAMINE
  509. MESALAMINE [Suspect]
     Active Substance: MESALAMINE
     Dosage: 2.4 GRAM, DAILY, 2.4 GRAM, QD
  510. MESALAMINE [Suspect]
     Active Substance: MESALAMINE
     Dosage: 4.8 GRAM, DAILY, 4.8 GRAM, QD
  511. MESALAMINE [Suspect]
     Active Substance: MESALAMINE
  512. MESALAMINE [Suspect]
     Active Substance: MESALAMINE
  513. MESALAMINE [Suspect]
     Active Substance: MESALAMINE
  514. MESALAMINE [Suspect]
     Active Substance: MESALAMINE
  515. MESALAMINE [Suspect]
     Active Substance: MESALAMINE
  516. MESALAMINE [Suspect]
     Active Substance: MESALAMINE
  517. MESALAMINE [Suspect]
     Active Substance: MESALAMINE
  518. MESALAMINE [Suspect]
     Active Substance: MESALAMINE
  519. MESALAMINE [Suspect]
     Active Substance: MESALAMINE
  520. MESALAMINE [Suspect]
     Active Substance: MESALAMINE
  521. MESALAMINE [Suspect]
     Active Substance: MESALAMINE
  522. MESALAMINE [Suspect]
     Active Substance: MESALAMINE
  523. MESALAMINE [Suspect]
     Active Substance: MESALAMINE
  524. MESALAMINE [Suspect]
     Active Substance: MESALAMINE
  525. MESALAMINE [Suspect]
     Active Substance: MESALAMINE
     Dosage: 2.4 GRAM, DAILY, 2.4 GRAM, QD
  526. MESALAMINE [Suspect]
     Active Substance: MESALAMINE
     Dosage: 4.8 GRAM, DAILY, 4.8 GRAM, QD
  527. MESALAMINE [Suspect]
     Active Substance: MESALAMINE
  528. MESALAMINE [Suspect]
     Active Substance: MESALAMINE
  529. MESALAMINE [Suspect]
     Active Substance: MESALAMINE
  530. MESALAMINE [Suspect]
     Active Substance: MESALAMINE
  531. MESALAMINE [Suspect]
     Active Substance: MESALAMINE
  532. MESALAMINE [Suspect]
     Active Substance: MESALAMINE
  533. MESALAMINE [Suspect]
     Active Substance: MESALAMINE
  534. MESALAMINE [Suspect]
     Active Substance: MESALAMINE
     Dosage: 6 DOSAGE FORM, QD
  535. MESALAMINE [Suspect]
     Active Substance: MESALAMINE
     Dosage: 3 DOSAGE FORM, BID
  536. VITAMIN D3 [Suspect]
     Active Substance: CHOLECALCIFEROL
     Indication: Product used for unknown indication
  537. VITAMIN D3 [Suspect]
     Active Substance: CHOLECALCIFEROL
     Dosage: 100 MILLIGRAM
  538. VITAMIN D3 [Suspect]
     Active Substance: CHOLECALCIFEROL
  539. VITAMIN D3 [Suspect]
     Active Substance: CHOLECALCIFEROL
  540. WARFARIN SODIUM [Suspect]
     Active Substance: WARFARIN SODIUM
     Indication: Deep vein thrombosis
     Dosage: 1 DOSAGE FORM,  1 EVERY 1 DAYS
  541. WARFARIN SODIUM [Suspect]
     Active Substance: WARFARIN SODIUM
     Indication: Colitis ulcerative
     Dosage: 8 DOSAGE FORM, 1 EVERY 8 WEEKS
  542. WARFARIN SODIUM [Suspect]
     Active Substance: WARFARIN SODIUM
  543. WARFARIN SODIUM [Suspect]
     Active Substance: WARFARIN SODIUM
  544. WARFARIN SODIUM [Suspect]
     Active Substance: WARFARIN SODIUM
  545. WARFARIN SODIUM [Suspect]
     Active Substance: WARFARIN SODIUM
  546. WARFARIN SODIUM [Suspect]
     Active Substance: WARFARIN SODIUM
  547. WARFARIN SODIUM [Suspect]
     Active Substance: WARFARIN SODIUM
  548. WARFARIN SODIUM [Suspect]
     Active Substance: WARFARIN SODIUM
     Dosage: 8 DOSAGE FORM, 1 DOSE PER 8W
  549. WARFARIN SODIUM [Suspect]
     Active Substance: WARFARIN SODIUM
  550. WARFARIN SODIUM [Suspect]
     Active Substance: WARFARIN SODIUM
     Dosage: 1 DOSAGE FORM,  1 EVERY 1 DAYS
  551. WARFARIN SODIUM [Suspect]
     Active Substance: WARFARIN SODIUM
  552. WARFARIN SODIUM [Suspect]
     Active Substance: WARFARIN SODIUM
  553. WARFARIN SODIUM [Suspect]
     Active Substance: WARFARIN SODIUM
     Dosage: 1 DOSAGE FORM,  1 EVERY 1 DAYS
  554. WARFARIN SODIUM [Suspect]
     Active Substance: WARFARIN SODIUM
     Dosage: 1 DOSAGE FORM,  1 EVERY 1 DAYS
  555. WARFARIN SODIUM [Suspect]
     Active Substance: WARFARIN SODIUM
     Dosage: 8 DOSAGE FORM, 1 EVERY 8 WEEKS
  556. WARFARIN SODIUM [Suspect]
     Active Substance: WARFARIN SODIUM
     Dosage: 8 DOSAGE FORM, 1 EVERY 8 WEEKS
  557. WARFARIN SODIUM [Suspect]
     Active Substance: WARFARIN SODIUM
     Dosage: 8 DOSAGE FORM, 1 EVERY 8 WEEKS
  558. WARFARIN SODIUM [Suspect]
     Active Substance: WARFARIN SODIUM
  559. WARFARIN SODIUM [Suspect]
     Active Substance: WARFARIN SODIUM
  560. WARFARIN SODIUM [Suspect]
     Active Substance: WARFARIN SODIUM
  561. WARFARIN SODIUM [Suspect]
     Active Substance: WARFARIN SODIUM
  562. COMIRNATY (TOZINAMERAN) [Suspect]
     Active Substance: TOZINAMERAN
     Indication: Product used for unknown indication
  563. COMIRNATY (TOZINAMERAN) [Suspect]
     Active Substance: TOZINAMERAN
  564. COMIRNATY (TOZINAMERAN) [Suspect]
     Active Substance: TOZINAMERAN
  565. COMIRNATY (TOZINAMERAN) [Suspect]
     Active Substance: TOZINAMERAN
  566. COMIRNATY (TOZINAMERAN) [Suspect]
     Active Substance: TOZINAMERAN
  567. COMIRNATY (TOZINAMERAN) [Suspect]
     Active Substance: TOZINAMERAN
  568. COMIRNATY (TOZINAMERAN) [Suspect]
     Active Substance: TOZINAMERAN
  569. COMIRNATY (TOZINAMERAN) [Suspect]
     Active Substance: TOZINAMERAN
  570. INFLIXIMAB [Suspect]
     Active Substance: INFLIXIMAB
     Indication: Crohn^s disease
  571. INFLIXIMAB [Suspect]
     Active Substance: INFLIXIMAB
     Indication: Colitis ulcerative
  572. INFLIXIMAB [Suspect]
     Active Substance: INFLIXIMAB
  573. INFLIXIMAB [Suspect]
     Active Substance: INFLIXIMAB
  574. INFLIXIMAB [Suspect]
     Active Substance: INFLIXIMAB
  575. INFLIXIMAB [Suspect]
     Active Substance: INFLIXIMAB
  576. INFLIXIMAB [Suspect]
     Active Substance: INFLIXIMAB
  577. INFLIXIMAB [Suspect]
     Active Substance: INFLIXIMAB
  578. INFLIXIMAB [Suspect]
     Active Substance: INFLIXIMAB
  579. INFLIXIMAB [Suspect]
     Active Substance: INFLIXIMAB
  580. INFLIXIMAB [Suspect]
     Active Substance: INFLIXIMAB
  581. INFLIXIMAB [Suspect]
     Active Substance: INFLIXIMAB
  582. INFLIXIMAB [Suspect]
     Active Substance: INFLIXIMAB
  583. INFLIXIMAB [Suspect]
     Active Substance: INFLIXIMAB
  584. INFLIXIMAB [Suspect]
     Active Substance: INFLIXIMAB
  585. INFLIXIMAB [Suspect]
     Active Substance: INFLIXIMAB
  586. INFLIXIMAB [Suspect]
     Active Substance: INFLIXIMAB
  587. INFLIXIMAB [Suspect]
     Active Substance: INFLIXIMAB
  588. INFLIXIMAB [Suspect]
     Active Substance: INFLIXIMAB
  589. INFLIXIMAB [Suspect]
     Active Substance: INFLIXIMAB
  590. INFLIXIMAB [Suspect]
     Active Substance: INFLIXIMAB
  591. INFLIXIMAB [Suspect]
     Active Substance: INFLIXIMAB
  592. INFLIXIMAB [Suspect]
     Active Substance: INFLIXIMAB
  593. INFLIXIMAB [Suspect]
     Active Substance: INFLIXIMAB
  594. INFLIXIMAB [Suspect]
     Active Substance: INFLIXIMAB
  595. INFLIXIMAB [Suspect]
     Active Substance: INFLIXIMAB
  596. INFLIXIMAB [Suspect]
     Active Substance: INFLIXIMAB
  597. INFLIXIMAB [Suspect]
     Active Substance: INFLIXIMAB
  598. INFLIXIMAB [Suspect]
     Active Substance: INFLIXIMAB
  599. INFLIXIMAB [Suspect]
     Active Substance: INFLIXIMAB
  600. INFLIXIMAB [Suspect]
     Active Substance: INFLIXIMAB
  601. INFLIXIMAB [Suspect]
     Active Substance: INFLIXIMAB
  602. INFLIXIMAB [Suspect]
     Active Substance: INFLIXIMAB
  603. INFLIXIMAB [Suspect]
     Active Substance: INFLIXIMAB
  604. INFLIXIMAB [Suspect]
     Active Substance: INFLIXIMAB
  605. INFLIXIMAB [Suspect]
     Active Substance: INFLIXIMAB
  606. INFLIXIMAB [Suspect]
     Active Substance: INFLIXIMAB
  607. INFLIXIMAB [Suspect]
     Active Substance: INFLIXIMAB
  608. INFLIXIMAB [Suspect]
     Active Substance: INFLIXIMAB
  609. INFLIXIMAB [Suspect]
     Active Substance: INFLIXIMAB
  610. INFLIXIMAB [Suspect]
     Active Substance: INFLIXIMAB
  611. INFLIXIMAB [Suspect]
     Active Substance: INFLIXIMAB
  612. INFLIXIMAB [Suspect]
     Active Substance: INFLIXIMAB
  613. INFLIXIMAB [Suspect]
     Active Substance: INFLIXIMAB
  614. INFLIXIMAB [Suspect]
     Active Substance: INFLIXIMAB
  615. INFLIXIMAB [Suspect]
     Active Substance: INFLIXIMAB
  616. INFLIXIMAB [Suspect]
     Active Substance: INFLIXIMAB
  617. INFLIXIMAB [Suspect]
     Active Substance: INFLIXIMAB
  618. INFLIXIMAB [Suspect]
     Active Substance: INFLIXIMAB
  619. INFLIXIMAB [Suspect]
     Active Substance: INFLIXIMAB
  620. INFLIXIMAB [Suspect]
     Active Substance: INFLIXIMAB
  621. INFLIXIMAB [Suspect]
     Active Substance: INFLIXIMAB
  622. INFLIXIMAB [Suspect]
     Active Substance: INFLIXIMAB
  623. INFLIXIMAB [Suspect]
     Active Substance: INFLIXIMAB
  624. INFLIXIMAB [Suspect]
     Active Substance: INFLIXIMAB
  625. INFLIXIMAB [Suspect]
     Active Substance: INFLIXIMAB
  626. INFLIXIMAB [Suspect]
     Active Substance: INFLIXIMAB
  627. INFLIXIMAB [Suspect]
     Active Substance: INFLIXIMAB
  628. INFLIXIMAB [Suspect]
     Active Substance: INFLIXIMAB
  629. INFLIXIMAB [Suspect]
     Active Substance: INFLIXIMAB
  630. INFLIXIMAB [Suspect]
     Active Substance: INFLIXIMAB
  631. INFLIXIMAB [Suspect]
     Active Substance: INFLIXIMAB
  632. INFLIXIMAB [Suspect]
     Active Substance: INFLIXIMAB
  633. INFLIXIMAB [Suspect]
     Active Substance: INFLIXIMAB
  634. INFLIXIMAB [Suspect]
     Active Substance: INFLIXIMAB
  635. INFLIXIMAB [Suspect]
     Active Substance: INFLIXIMAB
  636. INFLIXIMAB [Suspect]
     Active Substance: INFLIXIMAB
  637. INFLIXIMAB [Suspect]
     Active Substance: INFLIXIMAB
  638. INFLIXIMAB [Suspect]
     Active Substance: INFLIXIMAB
  639. INFLIXIMAB [Suspect]
     Active Substance: INFLIXIMAB
  640. INFLIXIMAB [Suspect]
     Active Substance: INFLIXIMAB
  641. INFLIXIMAB [Suspect]
     Active Substance: INFLIXIMAB
  642. INFLIXIMAB [Suspect]
     Active Substance: INFLIXIMAB
  643. INFLIXIMAB [Suspect]
     Active Substance: INFLIXIMAB
  644. INFLIXIMAB [Suspect]
     Active Substance: INFLIXIMAB
  645. INFLIXIMAB [Suspect]
     Active Substance: INFLIXIMAB
  646. INFLIXIMAB [Suspect]
     Active Substance: INFLIXIMAB
  647. INFLIXIMAB [Suspect]
     Active Substance: INFLIXIMAB
  648. INFLIXIMAB [Suspect]
     Active Substance: INFLIXIMAB
  649. INFLIXIMAB [Suspect]
     Active Substance: INFLIXIMAB
  650. INFLIXIMAB [Suspect]
     Active Substance: INFLIXIMAB
  651. INFLIXIMAB [Suspect]
     Active Substance: INFLIXIMAB
  652. INFLIXIMAB [Suspect]
     Active Substance: INFLIXIMAB
  653. INFLIXIMAB [Suspect]
     Active Substance: INFLIXIMAB
  654. INFLIXIMAB [Suspect]
     Active Substance: INFLIXIMAB
  655. INFLIXIMAB [Suspect]
     Active Substance: INFLIXIMAB
  656. INFLIXIMAB [Suspect]
     Active Substance: INFLIXIMAB
  657. INFLIXIMAB [Suspect]
     Active Substance: INFLIXIMAB
  658. MESALAMINE [Suspect]
     Active Substance: MESALAMINE
     Indication: Product used for unknown indication
  659. MESALAMINE [Suspect]
     Active Substance: MESALAMINE
  660. MESALAMINE [Suspect]
     Active Substance: MESALAMINE
  661. MESALAMINE [Suspect]
     Active Substance: MESALAMINE
  662. MESALAMINE [Suspect]
     Active Substance: MESALAMINE
  663. MESALAMINE [Suspect]
     Active Substance: MESALAMINE
  664. MESALAMINE [Suspect]
     Active Substance: MESALAMINE
  665. MESALAMINE [Suspect]
     Active Substance: MESALAMINE
  666. VYVANSE [Suspect]
     Active Substance: LISDEXAMFETAMINE DIMESYLATE
     Indication: Attention deficit hyperactivity disorder
  667. VYVANSE [Suspect]
     Active Substance: LISDEXAMFETAMINE DIMESYLATE
  668. VYVANSE [Suspect]
     Active Substance: LISDEXAMFETAMINE DIMESYLATE
  669. VYVANSE [Suspect]
     Active Substance: LISDEXAMFETAMINE DIMESYLATE
  670. VYVANSE [Suspect]
     Active Substance: LISDEXAMFETAMINE DIMESYLATE
  671. VYVANSE [Suspect]
     Active Substance: LISDEXAMFETAMINE DIMESYLATE
  672. VYVANSE [Suspect]
     Active Substance: LISDEXAMFETAMINE DIMESYLATE
  673. VYVANSE [Suspect]
     Active Substance: LISDEXAMFETAMINE DIMESYLATE
  674. XELJANZ [Concomitant]
     Active Substance: TOFACITINIB CITRATE
     Indication: Colitis ulcerative
     Dosage: 10 MILLIGRAM
  675. XELJANZ [Concomitant]
     Active Substance: TOFACITINIB CITRATE
     Dosage: 10 MILLIGRAM
  676. XELJANZ [Concomitant]
     Active Substance: TOFACITINIB CITRATE
     Dosage: 10 MILLIGRAM, 2 DOSE PER 1 D
  677. XELJANZ [Concomitant]
     Active Substance: TOFACITINIB CITRATE
     Dosage: 5 MILLIGRAM, 1 DOSE PER 1D
  678. XELJANZ [Concomitant]
     Active Substance: TOFACITINIB CITRATE
  679. XELJANZ [Concomitant]
     Active Substance: TOFACITINIB CITRATE
  680. XELJANZ [Concomitant]
     Active Substance: TOFACITINIB CITRATE
     Dosage: 5 MILLIGRAM, BID
  681. XELJANZ [Concomitant]
     Active Substance: TOFACITINIB CITRATE
     Dosage: 5 MILLIGRAM, BID
  682. XELJANZ [Concomitant]
     Active Substance: TOFACITINIB CITRATE
     Dosage: 5 MILLIGRAM, BID
  683. XELJANZ [Concomitant]
     Active Substance: TOFACITINIB CITRATE
     Dosage: 5 MILLIGRAM, BID
  684. DESOXIMETASONE [Suspect]
     Active Substance: DESOXIMETASONE
     Indication: Crohn^s disease
  685. DESOXIMETASONE [Suspect]
     Active Substance: DESOXIMETASONE
     Indication: Colitis ulcerative
  686. DESOXIMETASONE [Suspect]
     Active Substance: DESOXIMETASONE
  687. DESOXIMETASONE [Suspect]
     Active Substance: DESOXIMETASONE
  688. DESOXIMETASONE [Suspect]
     Active Substance: DESOXIMETASONE
  689. DESOXIMETASONE [Suspect]
     Active Substance: DESOXIMETASONE
  690. DESOXIMETASONE [Suspect]
     Active Substance: DESOXIMETASONE
  691. DESOXIMETASONE [Suspect]
     Active Substance: DESOXIMETASONE
  692. DESOXIMETASONE [Suspect]
     Active Substance: DESOXIMETASONE
  693. DESOXIMETASONE [Suspect]
     Active Substance: DESOXIMETASONE
  694. DESOXIMETASONE [Suspect]
     Active Substance: DESOXIMETASONE
  695. DESOXIMETASONE [Suspect]
     Active Substance: DESOXIMETASONE
  696. DESOXIMETASONE [Suspect]
     Active Substance: DESOXIMETASONE
  697. DESOXIMETASONE [Suspect]
     Active Substance: DESOXIMETASONE
  698. DESOXIMETASONE [Suspect]
     Active Substance: DESOXIMETASONE
  699. DESOXIMETASONE [Suspect]
     Active Substance: DESOXIMETASONE
  700. DESOXIMETASONE [Suspect]
     Active Substance: DESOXIMETASONE
  701. DESOXIMETASONE [Suspect]
     Active Substance: DESOXIMETASONE
  702. DESOXIMETASONE [Suspect]
     Active Substance: DESOXIMETASONE
  703. DESOXIMETASONE [Suspect]
     Active Substance: DESOXIMETASONE
  704. DESOXIMETASONE [Suspect]
     Active Substance: DESOXIMETASONE
  705. DESOXIMETASONE [Suspect]
     Active Substance: DESOXIMETASONE
  706. DESOXIMETASONE [Suspect]
     Active Substance: DESOXIMETASONE
  707. DESOXIMETASONE [Suspect]
     Active Substance: DESOXIMETASONE
  708. DESOXIMETASONE [Suspect]
     Active Substance: DESOXIMETASONE
  709. RAMIPRIL [Concomitant]
     Active Substance: RAMIPRIL
     Indication: Ill-defined disorder
  710. RAMIPRIL [Concomitant]
     Active Substance: RAMIPRIL
  711. RAMIPRIL [Concomitant]
     Active Substance: RAMIPRIL
  712. RAMIPRIL [Concomitant]
     Active Substance: RAMIPRIL
  713. RAMIPRIL [Concomitant]
     Active Substance: RAMIPRIL
  714. RAMIPRIL [Concomitant]
     Active Substance: RAMIPRIL
  715. METHOTREXATE [Concomitant]
     Active Substance: METHOTREXATE
     Indication: Colitis ulcerative
  716. METHOTREXATE [Concomitant]
     Active Substance: METHOTREXATE
     Indication: Colitis ulcerative
  717. METHOTREXATE [Concomitant]
     Active Substance: METHOTREXATE
  718. METHOTREXATE [Concomitant]
     Active Substance: METHOTREXATE
  719. METHOTREXATE [Concomitant]
     Active Substance: METHOTREXATE
  720. METHOTREXATE [Concomitant]
     Active Substance: METHOTREXATE
  721. METHOTREXATE [Concomitant]
     Active Substance: METHOTREXATE
  722. METHOTREXATE [Concomitant]
     Active Substance: METHOTREXATE
  723. METHOTREXATE [Concomitant]
     Active Substance: METHOTREXATE
  724. METHOTREXATE [Concomitant]
     Active Substance: METHOTREXATE
  725. METHOTREXATE [Concomitant]
     Active Substance: METHOTREXATE
  726. METHOTREXATE [Concomitant]
     Active Substance: METHOTREXATE
  727. METHOTREXATE [Concomitant]
     Active Substance: METHOTREXATE
  728. METHOTREXATE [Concomitant]
     Active Substance: METHOTREXATE
  729. METHOTREXATE [Concomitant]
     Active Substance: METHOTREXATE
  730. METHOTREXATE [Concomitant]
     Active Substance: METHOTREXATE
  731. METHOTREXATE [Concomitant]
     Active Substance: METHOTREXATE
  732. METHOTREXATE [Concomitant]
     Active Substance: METHOTREXATE
  733. METHOTREXATE [Concomitant]
     Active Substance: METHOTREXATE
  734. METHOTREXATE [Concomitant]
     Active Substance: METHOTREXATE
  735. METHOTREXATE [Concomitant]
     Active Substance: METHOTREXATE
  736. METHOTREXATE [Concomitant]
     Active Substance: METHOTREXATE
  737. TAMSULOSIN HYDROCHLORIDE [Concomitant]
     Active Substance: TAMSULOSIN HYDROCHLORIDE
     Indication: Ill-defined disorder
  738. TAMSULOSIN HYDROCHLORIDE [Concomitant]
     Active Substance: TAMSULOSIN HYDROCHLORIDE
  739. TAMSULOSIN HYDROCHLORIDE [Concomitant]
     Active Substance: TAMSULOSIN HYDROCHLORIDE
  740. TAMSULOSIN HYDROCHLORIDE [Concomitant]
     Active Substance: TAMSULOSIN HYDROCHLORIDE
  741. TAMSULOSIN HYDROCHLORIDE [Concomitant]
     Active Substance: TAMSULOSIN HYDROCHLORIDE
  742. TAMSULOSIN HYDROCHLORIDE [Concomitant]
     Active Substance: TAMSULOSIN HYDROCHLORIDE
  743. ACETAMINOPHEN [Concomitant]
     Active Substance: ACETAMINOPHEN
     Indication: Ill-defined disorder
  744. ACETAMINOPHEN [Concomitant]
     Active Substance: ACETAMINOPHEN
  745. ACETAMINOPHEN [Concomitant]
     Active Substance: ACETAMINOPHEN
  746. ACETAMINOPHEN [Concomitant]
     Active Substance: ACETAMINOPHEN
  747. ACETAMINOPHEN [Concomitant]
     Active Substance: ACETAMINOPHEN
  748. HUMIRA [Concomitant]
     Active Substance: ADALIMUMAB
     Indication: Deep vein thrombosis
  749. HUMIRA [Concomitant]
     Active Substance: ADALIMUMAB
     Indication: Crohn^s disease
  750. HUMIRA [Concomitant]
     Active Substance: ADALIMUMAB
     Indication: Colitis ulcerative
  751. HUMIRA [Concomitant]
     Active Substance: ADALIMUMAB
     Indication: Crohn^s disease
  752. HUMIRA [Concomitant]
     Active Substance: ADALIMUMAB
  753. HUMIRA [Concomitant]
     Active Substance: ADALIMUMAB
  754. HUMIRA [Concomitant]
     Active Substance: ADALIMUMAB
  755. HUMIRA [Concomitant]
     Active Substance: ADALIMUMAB
  756. HUMIRA [Concomitant]
     Active Substance: ADALIMUMAB
  757. HUMIRA [Concomitant]
     Active Substance: ADALIMUMAB
  758. HUMIRA [Concomitant]
     Active Substance: ADALIMUMAB
  759. HUMIRA [Concomitant]
     Active Substance: ADALIMUMAB
  760. HUMIRA [Concomitant]
     Active Substance: ADALIMUMAB
  761. HUMIRA [Concomitant]
     Active Substance: ADALIMUMAB
  762. HUMIRA [Concomitant]
     Active Substance: ADALIMUMAB
  763. HUMIRA [Concomitant]
     Active Substance: ADALIMUMAB
  764. HUMIRA [Concomitant]
     Active Substance: ADALIMUMAB
  765. HUMIRA [Concomitant]
     Active Substance: ADALIMUMAB
  766. HUMIRA [Concomitant]
     Active Substance: ADALIMUMAB
  767. HUMIRA [Concomitant]
     Active Substance: ADALIMUMAB
  768. AMLODIPINE BESYLATE [Concomitant]
     Active Substance: AMLODIPINE BESYLATE
     Indication: Product used for unknown indication
  769. AMLODIPINE BESYLATE [Concomitant]
     Active Substance: AMLODIPINE BESYLATE
  770. AMLODIPINE BESYLATE [Concomitant]
     Active Substance: AMLODIPINE BESYLATE
  771. AMLODIPINE BESYLATE [Concomitant]
     Active Substance: AMLODIPINE BESYLATE
  772. AMLODIPINE BESYLATE [Concomitant]
     Active Substance: AMLODIPINE BESYLATE
  773. AMLODIPINE BESYLATE [Concomitant]
     Active Substance: AMLODIPINE BESYLATE
  774. FESOTERODINE FUMARATE [Concomitant]
     Active Substance: FESOTERODINE FUMARATE
     Indication: Product used for unknown indication
  775. FESOTERODINE FUMARATE [Concomitant]
     Active Substance: FESOTERODINE FUMARATE
  776. FESOTERODINE FUMARATE [Concomitant]
     Active Substance: FESOTERODINE FUMARATE
  777. FESOTERODINE FUMARATE [Concomitant]
     Active Substance: FESOTERODINE FUMARATE
  778. FESOTERODINE FUMARATE [Concomitant]
     Active Substance: FESOTERODINE FUMARATE
  779. FESOTERODINE FUMARATE [Concomitant]
     Active Substance: FESOTERODINE FUMARATE
  780. FOLIC ACID [Concomitant]
     Active Substance: FOLIC ACID
     Indication: Product used for unknown indication
  781. FOLIC ACID [Concomitant]
     Active Substance: FOLIC ACID
     Indication: Ill-defined disorder
  782. FOLIC ACID [Concomitant]
     Active Substance: FOLIC ACID
  783. FOLIC ACID [Concomitant]
     Active Substance: FOLIC ACID
  784. FOLIC ACID [Concomitant]
     Active Substance: FOLIC ACID
  785. FOLIC ACID [Concomitant]
     Active Substance: FOLIC ACID
  786. DORZOLAMIDE HYDROCHLORIDE [Concomitant]
     Active Substance: DORZOLAMIDE HYDROCHLORIDE
     Indication: Product used for unknown indication
  787. DORZOLAMIDE HYDROCHLORIDE [Concomitant]
     Active Substance: DORZOLAMIDE HYDROCHLORIDE
     Indication: Ill-defined disorder
  788. DORZOLAMIDE HYDROCHLORIDE [Concomitant]
     Active Substance: DORZOLAMIDE HYDROCHLORIDE
  789. DORZOLAMIDE HYDROCHLORIDE [Concomitant]
     Active Substance: DORZOLAMIDE HYDROCHLORIDE
  790. DORZOLAMIDE HYDROCHLORIDE [Concomitant]
     Active Substance: DORZOLAMIDE HYDROCHLORIDE
  791. DORZOLAMIDE HYDROCHLORIDE [Concomitant]
     Active Substance: DORZOLAMIDE HYDROCHLORIDE
  792. POLYETHYLENE GLYCOL 3350\POTASSIUM CHLORIDE\SODIUM BICARBONATE\SODIUM [Concomitant]
     Active Substance: POLYETHYLENE GLYCOL 3350\POTASSIUM CHLORIDE\SODIUM BICARBONATE\SODIUM CHLORIDE
     Indication: Product used for unknown indication
  793. POLYETHYLENE GLYCOL 3350\POTASSIUM CHLORIDE\SODIUM BICARBONATE\SODIUM [Concomitant]
     Active Substance: POLYETHYLENE GLYCOL 3350\POTASSIUM CHLORIDE\SODIUM BICARBONATE\SODIUM CHLORIDE
  794. POLYETHYLENE GLYCOL 3350\POTASSIUM CHLORIDE\SODIUM BICARBONATE\SODIUM [Concomitant]
     Active Substance: POLYETHYLENE GLYCOL 3350\POTASSIUM CHLORIDE\SODIUM BICARBONATE\SODIUM CHLORIDE
  795. POLYETHYLENE GLYCOL 3350\POTASSIUM CHLORIDE\SODIUM BICARBONATE\SODIUM [Concomitant]
     Active Substance: POLYETHYLENE GLYCOL 3350\POTASSIUM CHLORIDE\SODIUM BICARBONATE\SODIUM CHLORIDE
  796. ATORVASTATIN CALCIUM [Concomitant]
     Active Substance: ATORVASTATIN CALCIUM
     Indication: Product used for unknown indication
  797. ATORVASTATIN CALCIUM [Concomitant]
     Active Substance: ATORVASTATIN CALCIUM
  798. ATORVASTATIN CALCIUM [Concomitant]
     Active Substance: ATORVASTATIN CALCIUM
  799. ATORVASTATIN CALCIUM [Concomitant]
     Active Substance: ATORVASTATIN CALCIUM
  800. ATORVASTATIN CALCIUM [Concomitant]
     Active Substance: ATORVASTATIN CALCIUM
  801. ATORVASTATIN CALCIUM [Concomitant]
     Active Substance: ATORVASTATIN CALCIUM
  802. LATANOPROST [Concomitant]
     Active Substance: LATANOPROST
     Indication: Product used for unknown indication
  803. LATANOPROST [Concomitant]
     Active Substance: LATANOPROST
  804. LATANOPROST [Concomitant]
     Active Substance: LATANOPROST
  805. LATANOPROST [Concomitant]
     Active Substance: LATANOPROST
  806. LATANOPROST [Concomitant]
     Active Substance: LATANOPROST
  807. LATANOPROST [Concomitant]
     Active Substance: LATANOPROST
  808. LYRICA [Concomitant]
     Active Substance: PREGABALIN
     Indication: Product used for unknown indication
  809. LYRICA [Concomitant]
     Active Substance: PREGABALIN
     Indication: Ill-defined disorder
  810. LYRICA [Concomitant]
     Active Substance: PREGABALIN
  811. LYRICA [Concomitant]
     Active Substance: PREGABALIN
  812. LYRICA [Concomitant]
     Active Substance: PREGABALIN
  813. LYRICA [Concomitant]
     Active Substance: PREGABALIN
  814. BETNOVATE [Concomitant]
     Active Substance: BETAMETHASONE
     Indication: Product used for unknown indication
  815. BETNOVATE [Concomitant]
     Active Substance: BETAMETHASONE
  816. BETNOVATE [Concomitant]
     Active Substance: BETAMETHASONE
  817. BETNOVATE [Concomitant]
     Active Substance: BETAMETHASONE
  818. BETNOVATE [Concomitant]
     Active Substance: BETAMETHASONE
  819. BETNOVATE [Concomitant]
     Active Substance: BETAMETHASONE
  820. ZEROBASE [Concomitant]
     Indication: Product used for unknown indication
  821. ZEROBASE [Concomitant]
  822. ZEROBASE [Concomitant]
  823. ZEROBASE [Concomitant]
  824. ZEROBASE [Concomitant]
  825. ZEROBASE [Concomitant]
  826. RIVAROXABAN [Concomitant]
     Active Substance: RIVAROXABAN
     Indication: Product used for unknown indication
  827. RIVAROXABAN [Concomitant]
     Active Substance: RIVAROXABAN
     Indication: Ill-defined disorder
  828. RIVAROXABAN [Concomitant]
     Active Substance: RIVAROXABAN
  829. RIVAROXABAN [Concomitant]
     Active Substance: RIVAROXABAN
  830. RIVAROXABAN [Concomitant]
     Active Substance: RIVAROXABAN
  831. RIVAROXABAN [Concomitant]
     Active Substance: RIVAROXABAN
  832. GAVISCON [Concomitant]
     Active Substance: ALUMINUM HYDROXIDE\MAGNESIUM CARBONATE
     Indication: Product used for unknown indication
  833. GAVISCON [Concomitant]
     Active Substance: ALUMINUM HYDROXIDE\MAGNESIUM CARBONATE
  834. GAVISCON [Concomitant]
     Active Substance: ALUMINUM HYDROXIDE\MAGNESIUM CARBONATE
  835. GAVISCON [Concomitant]
     Active Substance: ALUMINUM HYDROXIDE\MAGNESIUM CARBONATE
  836. GAVISCON [Concomitant]
     Active Substance: ALUMINUM HYDROXIDE\MAGNESIUM CARBONATE
  837. GAVISCON [Concomitant]
     Active Substance: ALUMINUM HYDROXIDE\MAGNESIUM CARBONATE
  838. POLYETHYLENE GLYCOL 3350\POTASSIUM CHLORIDE\SODIUM BICARBONATE\SODIUM [Concomitant]
     Active Substance: POLYETHYLENE GLYCOL 3350\POTASSIUM CHLORIDE\SODIUM BICARBONATE\SODIUM CHLORIDE
     Indication: Product used for unknown indication
  839. POLYETHYLENE GLYCOL 3350\POTASSIUM CHLORIDE\SODIUM BICARBONATE\SODIUM [Concomitant]
     Active Substance: POLYETHYLENE GLYCOL 3350\POTASSIUM CHLORIDE\SODIUM BICARBONATE\SODIUM CHLORIDE
  840. POLYETHYLENE GLYCOL 3350\POTASSIUM CHLORIDE\SODIUM BICARBONATE\SODIUM [Concomitant]
     Active Substance: POLYETHYLENE GLYCOL 3350\POTASSIUM CHLORIDE\SODIUM BICARBONATE\SODIUM CHLORIDE
  841. POLYETHYLENE GLYCOL 3350\POTASSIUM CHLORIDE\SODIUM BICARBONATE\SODIUM [Concomitant]
     Active Substance: POLYETHYLENE GLYCOL 3350\POTASSIUM CHLORIDE\SODIUM BICARBONATE\SODIUM CHLORIDE
  842. POLYETHYLENE GLYCOL 3350\POTASSIUM CHLORIDE\SODIUM BICARBONATE\SODIUM [Concomitant]
     Active Substance: POLYETHYLENE GLYCOL 3350\POTASSIUM CHLORIDE\SODIUM BICARBONATE\SODIUM CHLORIDE
  843. POLYETHYLENE GLYCOL 3350\POTASSIUM CHLORIDE\SODIUM BICARBONATE\SODIUM [Concomitant]
     Active Substance: POLYETHYLENE GLYCOL 3350\POTASSIUM CHLORIDE\SODIUM BICARBONATE\SODIUM CHLORIDE
  844. CALCIUM CARBONATE\CHOLECALCIFEROL [Concomitant]
     Active Substance: CALCIUM CARBONATE\CHOLECALCIFEROL
     Indication: Product used for unknown indication
  845. CALCIUM CARBONATE\CHOLECALCIFEROL [Concomitant]
     Active Substance: CALCIUM CARBONATE\CHOLECALCIFEROL
  846. CALCIUM CARBONATE\CHOLECALCIFEROL [Concomitant]
     Active Substance: CALCIUM CARBONATE\CHOLECALCIFEROL
  847. CALCIUM CARBONATE\CHOLECALCIFEROL [Concomitant]
     Active Substance: CALCIUM CARBONATE\CHOLECALCIFEROL
  848. CALCIUM CARBONATE\CHOLECALCIFEROL [Concomitant]
     Active Substance: CALCIUM CARBONATE\CHOLECALCIFEROL
  849. MOVICOL [Concomitant]
     Active Substance: POLYETHYLENE GLYCOL 3350\POTASSIUM CHLORIDE\SODIUM BICARBONATE\SODIUM CHLORIDE
     Indication: Product used for unknown indication
  850. MOVICOL [Concomitant]
     Active Substance: POLYETHYLENE GLYCOL 3350\POTASSIUM CHLORIDE\SODIUM BICARBONATE\SODIUM CHLORIDE
  851. MOVICOL [Concomitant]
     Active Substance: POLYETHYLENE GLYCOL 3350\POTASSIUM CHLORIDE\SODIUM BICARBONATE\SODIUM CHLORIDE
  852. MOVICOL [Concomitant]
     Active Substance: POLYETHYLENE GLYCOL 3350\POTASSIUM CHLORIDE\SODIUM BICARBONATE\SODIUM CHLORIDE
  853. MOVICOL [Concomitant]
     Active Substance: POLYETHYLENE GLYCOL 3350\POTASSIUM CHLORIDE\SODIUM BICARBONATE\SODIUM CHLORIDE
  854. MOVICOL [Concomitant]
     Active Substance: POLYETHYLENE GLYCOL 3350\POTASSIUM CHLORIDE\SODIUM BICARBONATE\SODIUM CHLORIDE
  855. RENNIE [Concomitant]
     Indication: Product used for unknown indication
  856. RENNIE [Concomitant]
  857. RENNIE [Concomitant]
  858. RENNIE [Concomitant]
  859. RENNIE [Concomitant]
  860. RENNIE [Concomitant]
  861. EMPAGLIFLOZIN [Concomitant]
     Active Substance: EMPAGLIFLOZIN
     Indication: Product used for unknown indication
  862. EMPAGLIFLOZIN [Concomitant]
     Active Substance: EMPAGLIFLOZIN
     Indication: Ill-defined disorder
  863. EMPAGLIFLOZIN [Concomitant]
     Active Substance: EMPAGLIFLOZIN
  864. EMPAGLIFLOZIN [Concomitant]
     Active Substance: EMPAGLIFLOZIN
  865. EMPAGLIFLOZIN [Concomitant]
     Active Substance: EMPAGLIFLOZIN
  866. EMPAGLIFLOZIN [Concomitant]
     Active Substance: EMPAGLIFLOZIN
  867. BISOPROLOL [Concomitant]
     Active Substance: BISOPROLOL
     Indication: Product used for unknown indication
  868. BISOPROLOL [Concomitant]
     Active Substance: BISOPROLOL
     Indication: Dyscalculia
  869. BISOPROLOL [Concomitant]
     Active Substance: BISOPROLOL
     Indication: Ill-defined disorder
  870. BISOPROLOL [Concomitant]
     Active Substance: BISOPROLOL
  871. BISOPROLOL [Concomitant]
     Active Substance: BISOPROLOL
  872. BISOPROLOL [Concomitant]
     Active Substance: BISOPROLOL
  873. LANSOPRAZOLE [Concomitant]
     Active Substance: LANSOPRAZOLE
     Indication: Product used for unknown indication
  874. LANSOPRAZOLE [Concomitant]
     Active Substance: LANSOPRAZOLE
     Indication: Ill-defined disorder
  875. LANSOPRAZOLE [Concomitant]
     Active Substance: LANSOPRAZOLE
  876. LANSOPRAZOLE [Concomitant]
     Active Substance: LANSOPRAZOLE
  877. LANSOPRAZOLE [Concomitant]
     Active Substance: LANSOPRAZOLE
  878. LANSOPRAZOLE [Concomitant]
     Active Substance: LANSOPRAZOLE
  879. SULFASALAZINE [Concomitant]
     Active Substance: SULFASALAZINE
     Indication: Product used for unknown indication
  880. SULFASALAZINE [Concomitant]
     Active Substance: SULFASALAZINE
  881. SULFASALAZINE [Concomitant]
     Active Substance: SULFASALAZINE
  882. SULFASALAZINE [Concomitant]
     Active Substance: SULFASALAZINE
  883. SULFASALAZINE [Concomitant]
     Active Substance: SULFASALAZINE
  884. ROSUVASTATIN [Concomitant]
     Active Substance: ROSUVASTATIN
     Indication: Product used for unknown indication
  885. ROSUVASTATIN [Concomitant]
     Active Substance: ROSUVASTATIN
  886. ROSUVASTATIN [Concomitant]
     Active Substance: ROSUVASTATIN
  887. ROSUVASTATIN [Concomitant]
     Active Substance: ROSUVASTATIN
  888. ROSUVASTATIN [Concomitant]
     Active Substance: ROSUVASTATIN
  889. CLOBETASONE BUTYRATE [Concomitant]
     Active Substance: CLOBETASONE BUTYRATE
     Indication: Product used for unknown indication
  890. CLOBETASONE BUTYRATE [Concomitant]
     Active Substance: CLOBETASONE BUTYRATE
     Indication: Ill-defined disorder
  891. CLOBETASONE BUTYRATE [Concomitant]
     Active Substance: CLOBETASONE BUTYRATE
  892. CLOBETASONE BUTYRATE [Concomitant]
     Active Substance: CLOBETASONE BUTYRATE
  893. CLOBETASONE BUTYRATE [Concomitant]
     Active Substance: CLOBETASONE BUTYRATE
  894. CLOBETASONE BUTYRATE [Concomitant]
     Active Substance: CLOBETASONE BUTYRATE
  895. TETRAHYDROZOLINE HYDROCHLORIDE [Concomitant]
     Active Substance: TETRAHYDROZOLINE HYDROCHLORIDE
     Indication: Product used for unknown indication
  896. TETRAHYDROZOLINE HYDROCHLORIDE [Concomitant]
     Active Substance: TETRAHYDROZOLINE HYDROCHLORIDE
  897. TETRAHYDROZOLINE HYDROCHLORIDE [Concomitant]
     Active Substance: TETRAHYDROZOLINE HYDROCHLORIDE
  898. TETRAHYDROZOLINE HYDROCHLORIDE [Concomitant]
     Active Substance: TETRAHYDROZOLINE HYDROCHLORIDE
  899. TETRAHYDROZOLINE HYDROCHLORIDE [Concomitant]
     Active Substance: TETRAHYDROZOLINE HYDROCHLORIDE
  900. TETRAHYDROZOLINE HYDROCHLORIDE [Concomitant]
     Active Substance: TETRAHYDROZOLINE HYDROCHLORIDE
  901. TETRAHYDROZOLINE HYDROCHLORIDE [Concomitant]
     Active Substance: TETRAHYDROZOLINE HYDROCHLORIDE
  902. NITROFURANTOIN [Concomitant]
     Active Substance: NITROFURANTOIN
     Indication: Product used for unknown indication
  903. NITROFURANTOIN [Concomitant]
     Active Substance: NITROFURANTOIN
     Indication: Ill-defined disorder
  904. NITROFURANTOIN [Concomitant]
     Active Substance: NITROFURANTOIN
  905. NITROFURANTOIN [Concomitant]
     Active Substance: NITROFURANTOIN
  906. NITROFURANTOIN [Concomitant]
     Active Substance: NITROFURANTOIN
  907. NITROFURANTOIN [Concomitant]
     Active Substance: NITROFURANTOIN
  908. ATORVASTATIN [Concomitant]
     Active Substance: ATORVASTATIN
     Indication: Product used for unknown indication
  909. ATORVASTATIN [Concomitant]
     Active Substance: ATORVASTATIN
  910. ATORVASTATIN [Concomitant]
     Active Substance: ATORVASTATIN
  911. ATORVASTATIN [Concomitant]
     Active Substance: ATORVASTATIN
  912. ATORVASTATIN [Concomitant]
     Active Substance: ATORVASTATIN
  913. ACETAMINOPHEN [Concomitant]
     Active Substance: ACETAMINOPHEN
     Indication: Product used for unknown indication
  914. ACETAMINOPHEN [Concomitant]
     Active Substance: ACETAMINOPHEN
  915. ACETAMINOPHEN [Concomitant]
     Active Substance: ACETAMINOPHEN
  916. ACETAMINOPHEN [Concomitant]
     Active Substance: ACETAMINOPHEN
  917. ACETAMINOPHEN [Concomitant]
     Active Substance: ACETAMINOPHEN
  918. ACETAMINOPHEN [Concomitant]
     Active Substance: ACETAMINOPHEN
  919. CITALOPRAM [Concomitant]
     Active Substance: CITALOPRAM
     Indication: Product used for unknown indication
  920. CITALOPRAM [Concomitant]
     Active Substance: CITALOPRAM
     Indication: Ill-defined disorder
  921. CITALOPRAM [Concomitant]
     Active Substance: CITALOPRAM
  922. CITALOPRAM [Concomitant]
     Active Substance: CITALOPRAM
  923. CITALOPRAM [Concomitant]
     Active Substance: CITALOPRAM
  924. CITALOPRAM [Concomitant]
     Active Substance: CITALOPRAM
  925. OMEPRAZOLE [Concomitant]
     Active Substance: OMEPRAZOLE
     Indication: Product used for unknown indication
  926. OMEPRAZOLE [Concomitant]
     Active Substance: OMEPRAZOLE
  927. OMEPRAZOLE [Concomitant]
     Active Substance: OMEPRAZOLE
  928. OMEPRAZOLE [Concomitant]
     Active Substance: OMEPRAZOLE
  929. DAPAGLIFLOZIN [Concomitant]
     Active Substance: DAPAGLIFLOZIN
     Indication: Product used for unknown indication
  930. DAPAGLIFLOZIN [Concomitant]
     Active Substance: DAPAGLIFLOZIN
  931. DAPAGLIFLOZIN [Concomitant]
     Active Substance: DAPAGLIFLOZIN
  932. DAPAGLIFLOZIN [Concomitant]
     Active Substance: DAPAGLIFLOZIN
  933. DAPAGLIFLOZIN [Concomitant]
     Active Substance: DAPAGLIFLOZIN
  934. LATANOPROST [Concomitant]
     Active Substance: LATANOPROST
     Indication: Product used for unknown indication
  935. LATANOPROST [Concomitant]
     Active Substance: LATANOPROST
     Indication: Crohn^s disease
  936. LATANOPROST [Concomitant]
     Active Substance: LATANOPROST
     Indication: Colitis ulcerative
  937. LATANOPROST [Concomitant]
     Active Substance: LATANOPROST
  938. LATANOPROST [Concomitant]
     Active Substance: LATANOPROST
  939. LATANOPROST [Concomitant]
     Active Substance: LATANOPROST
  940. LATANOPROST [Concomitant]
     Active Substance: LATANOPROST
  941. AMLODIPINE [Concomitant]
     Active Substance: AMLODIPINE BESYLATE
     Indication: Product used for unknown indication
  942. AMLODIPINE [Concomitant]
     Active Substance: AMLODIPINE BESYLATE
  943. AMLODIPINE [Concomitant]
     Active Substance: AMLODIPINE BESYLATE
  944. AMLODIPINE [Concomitant]
     Active Substance: AMLODIPINE BESYLATE
  945. AMLODIPINE [Concomitant]
     Active Substance: AMLODIPINE BESYLATE
  946. ASPIRIN [Concomitant]
     Active Substance: ASPIRIN
     Indication: Product used for unknown indication
  947. ASPIRIN [Concomitant]
     Active Substance: ASPIRIN
  948. ASPIRIN [Concomitant]
     Active Substance: ASPIRIN
  949. ASPIRIN [Concomitant]
     Active Substance: ASPIRIN
  950. PRAVASTATIN [Concomitant]
     Active Substance: PRAVASTATIN
     Indication: Product used for unknown indication
  951. PRAVASTATIN [Concomitant]
     Active Substance: PRAVASTATIN
     Indication: Ill-defined disorder
  952. PRAVASTATIN [Concomitant]
     Active Substance: PRAVASTATIN
  953. PRAVASTATIN [Concomitant]
     Active Substance: PRAVASTATIN
  954. PRAVASTATIN [Concomitant]
     Active Substance: PRAVASTATIN
  955. PRAVASTATIN [Concomitant]
     Active Substance: PRAVASTATIN
  956. CALCIUM CARBONATE;SODIUM ALGINATE;SODIUM BICARBONATE [Concomitant]
     Indication: Product used for unknown indication
  957. CALCIUM CARBONATE;SODIUM ALGINATE;SODIUM BICARBONATE [Concomitant]
  958. CALCIUM CARBONATE;SODIUM ALGINATE;SODIUM BICARBONATE [Concomitant]
  959. CALCIUM CARBONATE;SODIUM ALGINATE;SODIUM BICARBONATE [Concomitant]
  960. CALCIUM CARBONATE\CHOLECALCIFEROL [Concomitant]
     Active Substance: CALCIUM CARBONATE\CHOLECALCIFEROL
     Indication: Product used for unknown indication
  961. CALCIUM CARBONATE\CHOLECALCIFEROL [Concomitant]
     Active Substance: CALCIUM CARBONATE\CHOLECALCIFEROL
  962. CALCIUM CARBONATE\CHOLECALCIFEROL [Concomitant]
     Active Substance: CALCIUM CARBONATE\CHOLECALCIFEROL
  963. CALCIUM CARBONATE\CHOLECALCIFEROL [Concomitant]
     Active Substance: CALCIUM CARBONATE\CHOLECALCIFEROL
  964. MINERAL OIL [Concomitant]
     Active Substance: MINERAL OIL
     Indication: Ill-defined disorder
  965. MINERAL OIL [Concomitant]
     Active Substance: MINERAL OIL
  966. MINERAL OIL [Concomitant]
     Active Substance: MINERAL OIL
  967. MINERAL OIL [Concomitant]
     Active Substance: MINERAL OIL
  968. MINERAL OIL [Concomitant]
     Active Substance: MINERAL OIL
  969. MINERAL OIL [Concomitant]
     Active Substance: MINERAL OIL
  970. NAPHAZOLINE HYDROCHLORIDE [Concomitant]
     Active Substance: NAPHAZOLINE HYDROCHLORIDE
     Indication: Ill-defined disorder
  971. NAPHAZOLINE HYDROCHLORIDE [Concomitant]
     Active Substance: NAPHAZOLINE HYDROCHLORIDE
  972. NAPHAZOLINE HYDROCHLORIDE [Concomitant]
     Active Substance: NAPHAZOLINE HYDROCHLORIDE
  973. NAPHAZOLINE HYDROCHLORIDE [Concomitant]
     Active Substance: NAPHAZOLINE HYDROCHLORIDE
  974. NAPHAZOLINE HYDROCHLORIDE [Concomitant]
     Active Substance: NAPHAZOLINE HYDROCHLORIDE
  975. NAPHAZOLINE HYDROCHLORIDE [Concomitant]
     Active Substance: NAPHAZOLINE HYDROCHLORIDE
  976. TOFACITINIB CITRATE [Concomitant]
     Active Substance: TOFACITINIB CITRATE
     Indication: Ill-defined disorder
  977. TOFACITINIB CITRATE [Concomitant]
     Active Substance: TOFACITINIB CITRATE
  978. TOFACITINIB CITRATE [Concomitant]
     Active Substance: TOFACITINIB CITRATE
  979. TOFACITINIB CITRATE [Concomitant]
     Active Substance: TOFACITINIB CITRATE
  980. TOFACITINIB CITRATE [Concomitant]
     Active Substance: TOFACITINIB CITRATE
  981. TOFACITINIB CITRATE [Concomitant]
     Active Substance: TOFACITINIB CITRATE
  982. ALGINIC ACID;ALUMINIUM HYDROXIDE GEL, DRIED;MAGNESIUM TRISILICATE;SODI [Concomitant]
     Indication: Ill-defined disorder
  983. ALGINIC ACID;ALUMINIUM HYDROXIDE GEL, DRIED;MAGNESIUM TRISILICATE;SODI [Concomitant]
  984. ALGINIC ACID;ALUMINIUM HYDROXIDE GEL, DRIED;MAGNESIUM TRISILICATE;SODI [Concomitant]
  985. ALGINIC ACID;ALUMINIUM HYDROXIDE GEL, DRIED;MAGNESIUM TRISILICATE;SODI [Concomitant]
  986. CALCIUM CARBONATE;SODIUM ALGINATE;SODIUM BICARBONATE [Concomitant]
     Indication: Product used for unknown indication
     Route: 065
  987. CALCIUM CARBONATE;SODIUM ALGINATE;SODIUM BICARBONATE [Concomitant]
     Route: 065
  988. CALCIUM CARBONATE;SODIUM ALGINATE;SODIUM BICARBONATE [Concomitant]
  989. CALCIUM CARBONATE;SODIUM ALGINATE;SODIUM BICARBONATE [Concomitant]
  990. CALCIUM CARBONATE;SODIUM ALGINATE;SODIUM BICARBONATE [Concomitant]
  991. CALCIUM CARBONATE;SODIUM ALGINATE;SODIUM BICARBONATE [Concomitant]
  992. CALCIUM CARBONATE;SODIUM ALGINATE;SODIUM BICARBONATE [Concomitant]
     Indication: Product used for unknown indication
     Route: 065
  993. CALCIUM CARBONATE;SODIUM ALGINATE;SODIUM BICARBONATE [Concomitant]
     Route: 065
  994. CALCIUM CARBONATE;SODIUM ALGINATE;SODIUM BICARBONATE [Concomitant]
  995. CALCIUM CARBONATE;SODIUM ALGINATE;SODIUM BICARBONATE [Concomitant]
  996. CALCIUM CARBONATE;SODIUM ALGINATE;SODIUM BICARBONATE [Concomitant]
  997. CALCIUM CARBONATE;SODIUM ALGINATE;SODIUM BICARBONATE [Concomitant]
  998. ALGINIC ACID;ALUMINIUM HYDROXIDE GEL, DRIED;MAGNESIUM TRISILICATE;SODI [Concomitant]
     Indication: Ill-defined disorder
     Route: 065
  999. ALGINIC ACID;ALUMINIUM HYDROXIDE GEL, DRIED;MAGNESIUM TRISILICATE;SODI [Concomitant]
     Route: 065
  1000. ALGINIC ACID;ALUMINIUM HYDROXIDE GEL, DRIED;MAGNESIUM TRISILICATE;SODI [Concomitant]
  1001. ALGINIC ACID;ALUMINIUM HYDROXIDE GEL, DRIED;MAGNESIUM TRISILICATE;SODI [Concomitant]
  1002. ALGINIC ACID;ALUMINIUM HYDROXIDE GEL, DRIED;MAGNESIUM TRISILICATE;SODI [Concomitant]
  1003. ALGINIC ACID;ALUMINIUM HYDROXIDE GEL, DRIED;MAGNESIUM TRISILICATE;SODI [Concomitant]
  1004. POLYETHYLENE GLYCOL 3350\POTASSIUM CHLORIDE\SODIUM BICARBONATE\SODIUM [Concomitant]
     Active Substance: POLYETHYLENE GLYCOL 3350\POTASSIUM CHLORIDE\SODIUM BICARBONATE\SODIUM CHLORIDE
     Indication: Product used for unknown indication
     Route: 065
  1005. POLYETHYLENE GLYCOL 3350\POTASSIUM CHLORIDE\SODIUM BICARBONATE\SODIUM [Concomitant]
     Active Substance: POLYETHYLENE GLYCOL 3350\POTASSIUM CHLORIDE\SODIUM BICARBONATE\SODIUM CHLORIDE
     Route: 065
  1006. POLYETHYLENE GLYCOL 3350\POTASSIUM CHLORIDE\SODIUM BICARBONATE\SODIUM [Concomitant]
     Active Substance: POLYETHYLENE GLYCOL 3350\POTASSIUM CHLORIDE\SODIUM BICARBONATE\SODIUM CHLORIDE
  1007. POLYETHYLENE GLYCOL 3350\POTASSIUM CHLORIDE\SODIUM BICARBONATE\SODIUM [Concomitant]
     Active Substance: POLYETHYLENE GLYCOL 3350\POTASSIUM CHLORIDE\SODIUM BICARBONATE\SODIUM CHLORIDE
  1008. POLYETHYLENE GLYCOL 3350\POTASSIUM CHLORIDE\SODIUM BICARBONATE\SODIUM [Concomitant]
     Active Substance: POLYETHYLENE GLYCOL 3350\POTASSIUM CHLORIDE\SODIUM BICARBONATE\SODIUM CHLORIDE
  1009. POLYETHYLENE GLYCOL 3350\POTASSIUM CHLORIDE\SODIUM BICARBONATE\SODIUM [Concomitant]
     Active Substance: POLYETHYLENE GLYCOL 3350\POTASSIUM CHLORIDE\SODIUM BICARBONATE\SODIUM CHLORIDE
  1010. ALGINIC ACID;ALUMINIUM HYDROXIDE GEL, DRIED;MAGNESIUM TRISILICATE;SODI [Concomitant]
     Indication: Ill-defined disorder
     Route: 065
  1011. ALGINIC ACID;ALUMINIUM HYDROXIDE GEL, DRIED;MAGNESIUM TRISILICATE;SODI [Concomitant]
     Route: 065
  1012. ALGINIC ACID;ALUMINIUM HYDROXIDE GEL, DRIED;MAGNESIUM TRISILICATE;SODI [Concomitant]
  1013. ALGINIC ACID;ALUMINIUM HYDROXIDE GEL, DRIED;MAGNESIUM TRISILICATE;SODI [Concomitant]
  1014. ALGINIC ACID;ALUMINIUM HYDROXIDE GEL, DRIED;MAGNESIUM TRISILICATE;SODI [Concomitant]
  1015. ALGINIC ACID;ALUMINIUM HYDROXIDE GEL, DRIED;MAGNESIUM TRISILICATE;SODI [Concomitant]
  1016. ALGINIC ACID;ALUMINIUM HYDROXIDE GEL, DRIED;MAGNESIUM TRISILICATE;SODI [Concomitant]
     Indication: Ill-defined disorder
     Route: 065
  1017. ALGINIC ACID;ALUMINIUM HYDROXIDE GEL, DRIED;MAGNESIUM TRISILICATE;SODI [Concomitant]
     Indication: Ill-defined disorder
     Route: 065
  1018. ALGINIC ACID;ALUMINIUM HYDROXIDE GEL, DRIED;MAGNESIUM TRISILICATE;SODI [Concomitant]
  1019. ALGINIC ACID;ALUMINIUM HYDROXIDE GEL, DRIED;MAGNESIUM TRISILICATE;SODI [Concomitant]
  1020. ALGINIC ACID;ALUMINIUM HYDROXIDE GEL, DRIED;MAGNESIUM TRISILICATE;SODI [Concomitant]
  1021. ALGINIC ACID;ALUMINIUM HYDROXIDE GEL, DRIED;MAGNESIUM TRISILICATE;SODI [Concomitant]
  1022. POLYETHYLENE GLYCOL 3350\POTASSIUM CHLORIDE\SODIUM BICARBONATE\SODIUM [Concomitant]
     Active Substance: POLYETHYLENE GLYCOL 3350\POTASSIUM CHLORIDE\SODIUM BICARBONATE\SODIUM CHLORIDE
     Indication: Product used for unknown indication
     Route: 065
  1023. POLYETHYLENE GLYCOL 3350\POTASSIUM CHLORIDE\SODIUM BICARBONATE\SODIUM [Concomitant]
     Active Substance: POLYETHYLENE GLYCOL 3350\POTASSIUM CHLORIDE\SODIUM BICARBONATE\SODIUM CHLORIDE
     Route: 065
  1024. POLYETHYLENE GLYCOL 3350\POTASSIUM CHLORIDE\SODIUM BICARBONATE\SODIUM [Concomitant]
     Active Substance: POLYETHYLENE GLYCOL 3350\POTASSIUM CHLORIDE\SODIUM BICARBONATE\SODIUM CHLORIDE
  1025. POLYETHYLENE GLYCOL 3350\POTASSIUM CHLORIDE\SODIUM BICARBONATE\SODIUM [Concomitant]
     Active Substance: POLYETHYLENE GLYCOL 3350\POTASSIUM CHLORIDE\SODIUM BICARBONATE\SODIUM CHLORIDE
  1026. POLYETHYLENE GLYCOL 3350\POTASSIUM CHLORIDE\SODIUM BICARBONATE\SODIUM [Concomitant]
     Active Substance: POLYETHYLENE GLYCOL 3350\POTASSIUM CHLORIDE\SODIUM BICARBONATE\SODIUM CHLORIDE
  1027. POLYETHYLENE GLYCOL 3350\POTASSIUM CHLORIDE\SODIUM BICARBONATE\SODIUM [Concomitant]
     Active Substance: POLYETHYLENE GLYCOL 3350\POTASSIUM CHLORIDE\SODIUM BICARBONATE\SODIUM CHLORIDE
  1028. POLYETHYLENE GLYCOL 3350\POTASSIUM CHLORIDE\SODIUM BICARBONATE\SODIUM [Concomitant]
     Active Substance: POLYETHYLENE GLYCOL 3350\POTASSIUM CHLORIDE\SODIUM BICARBONATE\SODIUM CHLORIDE
     Indication: Product used for unknown indication
     Route: 065
  1029. POLYETHYLENE GLYCOL 3350\POTASSIUM CHLORIDE\SODIUM BICARBONATE\SODIUM [Concomitant]
     Active Substance: POLYETHYLENE GLYCOL 3350\POTASSIUM CHLORIDE\SODIUM BICARBONATE\SODIUM CHLORIDE
     Route: 065
  1030. POLYETHYLENE GLYCOL 3350\POTASSIUM CHLORIDE\SODIUM BICARBONATE\SODIUM [Concomitant]
     Active Substance: POLYETHYLENE GLYCOL 3350\POTASSIUM CHLORIDE\SODIUM BICARBONATE\SODIUM CHLORIDE
  1031. POLYETHYLENE GLYCOL 3350\POTASSIUM CHLORIDE\SODIUM BICARBONATE\SODIUM [Concomitant]
     Active Substance: POLYETHYLENE GLYCOL 3350\POTASSIUM CHLORIDE\SODIUM BICARBONATE\SODIUM CHLORIDE
  1032. POLYETHYLENE GLYCOL 3350\POTASSIUM CHLORIDE\SODIUM BICARBONATE\SODIUM [Concomitant]
     Active Substance: POLYETHYLENE GLYCOL 3350\POTASSIUM CHLORIDE\SODIUM BICARBONATE\SODIUM CHLORIDE
  1033. POLYETHYLENE GLYCOL 3350\POTASSIUM CHLORIDE\SODIUM BICARBONATE\SODIUM [Concomitant]
     Active Substance: POLYETHYLENE GLYCOL 3350\POTASSIUM CHLORIDE\SODIUM BICARBONATE\SODIUM CHLORIDE
  1034. CALCIUM CARBONATE\CHOLECALCIFEROL [Concomitant]
     Active Substance: CALCIUM CARBONATE\CHOLECALCIFEROL
     Indication: Product used for unknown indication
     Route: 065
  1035. CALCIUM CARBONATE\CHOLECALCIFEROL [Concomitant]
     Active Substance: CALCIUM CARBONATE\CHOLECALCIFEROL
     Route: 065
  1036. CALCIUM CARBONATE\CHOLECALCIFEROL [Concomitant]
     Active Substance: CALCIUM CARBONATE\CHOLECALCIFEROL
  1037. CALCIUM CARBONATE\CHOLECALCIFEROL [Concomitant]
     Active Substance: CALCIUM CARBONATE\CHOLECALCIFEROL
  1038. CALCIUM CARBONATE\CHOLECALCIFEROL [Concomitant]
     Active Substance: CALCIUM CARBONATE\CHOLECALCIFEROL
  1039. CALCIUM CARBONATE\CHOLECALCIFEROL [Concomitant]
     Active Substance: CALCIUM CARBONATE\CHOLECALCIFEROL
  1040. ALGINIC ACID;ALUMINIUM HYDROXIDE GEL, DRIED;MAGNESIUM TRISILICATE;SODI [Concomitant]
     Indication: Ill-defined disorder
     Route: 065
  1041. ALGINIC ACID;ALUMINIUM HYDROXIDE GEL, DRIED;MAGNESIUM TRISILICATE;SODI [Concomitant]
     Indication: Ill-defined disorder
     Route: 065
  1042. ALGINIC ACID;ALUMINIUM HYDROXIDE GEL, DRIED;MAGNESIUM TRISILICATE;SODI [Concomitant]
  1043. ALGINIC ACID;ALUMINIUM HYDROXIDE GEL, DRIED;MAGNESIUM TRISILICATE;SODI [Concomitant]
  1044. ALGINIC ACID;ALUMINIUM HYDROXIDE GEL, DRIED;MAGNESIUM TRISILICATE;SODI [Concomitant]
  1045. ALGINIC ACID;ALUMINIUM HYDROXIDE GEL, DRIED;MAGNESIUM TRISILICATE;SODI [Concomitant]
  1046. OXYCODONE HYDROCHLORIDE [Suspect]
     Active Substance: OXYCODONE HYDROCHLORIDE
     Indication: Product used for unknown indication
     Dosage: 10 MILLIGRAM, DAILY (5 MILLIGRAM, 2 DOSE PER 1 D)
  1047. OXYCODONE HYDROCHLORIDE [Suspect]
     Active Substance: OXYCODONE HYDROCHLORIDE
  1048. ADALIMUMAB [Suspect]
     Active Substance: ADALIMUMAB
     Indication: Crohn^s disease
  1049. ADALIMUMAB [Suspect]
     Active Substance: ADALIMUMAB
     Indication: Colitis ulcerative
  1050. PULMICORT TURBUHALER [Suspect]
     Active Substance: BUDESONIDE
     Indication: Colitis ulcerative
  1051. PULMICORT TURBUHALER [Suspect]
     Active Substance: BUDESONIDE
     Indication: Product used for unknown indication
  1052. PULMICORT TURBUHALER [Suspect]
     Active Substance: BUDESONIDE
  1053. PULMICORT TURBUHALER [Suspect]
     Active Substance: BUDESONIDE
  1054. PULMICORT TURBUHALER [Suspect]
     Active Substance: BUDESONIDE
  1055. PULMICORT TURBUHALER [Suspect]
     Active Substance: BUDESONIDE
  1056. PULMICORT TURBUHALER [Suspect]
     Active Substance: BUDESONIDE
  1057. PULMICORT TURBUHALER [Suspect]
     Active Substance: BUDESONIDE
  1058. PULMICORT TURBUHALER [Suspect]
     Active Substance: BUDESONIDE
     Dosage: 1 DOSAGE FORM, QD
  1059. PULMICORT TURBUHALER [Suspect]
     Active Substance: BUDESONIDE
  1060. PULMICORT TURBUHALER [Suspect]
     Active Substance: BUDESONIDE
     Dosage: 8 DOSAGE FORM,  1 EVERY 1 DAYS
  1061. DAPAGLIFLOZIN [Suspect]
     Active Substance: DAPAGLIFLOZIN
     Indication: Ill-defined disorder
  1062. FELODIPINE [Suspect]
     Active Substance: FELODIPINE
     Indication: Hypertension
     Dosage: 5 MILLIGRAM, DAILY (2.5 MILLIGRAM, 2 DOSE PER 1 D)
  1063. FELODIPINE [Suspect]
     Active Substance: FELODIPINE
  1064. ESOMEPRAZOLE [Suspect]
     Active Substance: ESOMEPRAZOLE
     Indication: Gastritis
  1065. ESCITALOPRAM [Suspect]
     Active Substance: ESCITALOPRAM OXALATE
     Indication: Product used for unknown indication
  1066. HYDROCORTISONE [Suspect]
     Active Substance: HYDROCORTISONE
     Indication: Colitis ulcerative
     Dosage: 8 DOSAGE FORM, 1 EVERY 1 DAYS
  1067. HYDROCORTISONE [Suspect]
     Active Substance: HYDROCORTISONE
  1068. HYDROCORTISONE [Suspect]
     Active Substance: HYDROCORTISONE
     Dosage: 3 DOSAGE FORM;  2 EVERY 1 DAYS
  1069. HYDROCORTISONE [Suspect]
     Active Substance: HYDROCORTISONE
  1070. HYDROCORTISONE [Suspect]
     Active Substance: HYDROCORTISONE
     Dosage: 1 DOSAGE FORM  1 EVERY 1 DAYS
  1071. HYDROCORTISONE [Suspect]
     Active Substance: HYDROCORTISONE
     Dosage: 1 EVERY 8 WEEKS
  1072. HYDROCORTISONE [Suspect]
     Active Substance: HYDROCORTISONE
  1073. HYDROCORTISONE [Suspect]
     Active Substance: HYDROCORTISONE
     Dosage: 1 DOSAGE FORM, QD
  1074. METFORMIN [Suspect]
     Active Substance: METFORMIN HYDROCHLORIDE
     Indication: Product used for unknown indication
  1075. OMEPRAZOLE [Suspect]
     Active Substance: OMEPRAZOLE
     Indication: Gastritis
  1076. PREDNISONE [Suspect]
     Active Substance: PREDNISONE
     Indication: Colitis ulcerative
  1077. PREDNISONE [Suspect]
     Active Substance: PREDNISONE
     Dosage: 50 MILLIGRAM,  1 EVERY 1 DAYS
  1078. PREDNISONE [Suspect]
     Active Substance: PREDNISONE
     Dosage: 40 MILLIGRAM,  1 EVERY 1 DAYS
  1079. PREDNISONE [Suspect]
     Active Substance: PREDNISONE
  1080. PREDNISONE [Suspect]
     Active Substance: PREDNISONE
  1081. PREDNISONE [Suspect]
     Active Substance: PREDNISONE
  1082. PREDNISONE [Suspect]
     Active Substance: PREDNISONE
  1083. VEDOLIZUMAB [Suspect]
     Active Substance: VEDOLIZUMAB
     Indication: Deep vein thrombosis
  1084. VEDOLIZUMAB [Suspect]
     Active Substance: VEDOLIZUMAB
     Indication: Colitis ulcerative
     Dosage: 1 DOSAGE FORM, QD
  1085. CRESTOR [Suspect]
     Active Substance: ROSUVASTATIN CALCIUM
     Indication: Ill-defined disorder
  1086. CRESTOR [Suspect]
     Active Substance: ROSUVASTATIN CALCIUM
     Indication: Blood cholesterol increased
  1087. CRESTOR [Suspect]
     Active Substance: ROSUVASTATIN CALCIUM
  1088. CRESTOR [Suspect]
     Active Substance: ROSUVASTATIN CALCIUM
  1089. WARFARIN [Suspect]
     Active Substance: WARFARIN
     Indication: Deep vein thrombosis
  1090. ASPIRIN [Suspect]
     Active Substance: ASPIRIN
     Indication: Product used for unknown indication
  1091. METFORMIN [Suspect]
     Active Substance: METFORMIN HYDROCHLORIDE
     Indication: Product used for unknown indication
  1092. METFORMIN [Suspect]
     Active Substance: METFORMIN HYDROCHLORIDE
     Dosage: 500 MILLIGRAM, 2 DOSE PER 1 D
  1093. ESOMEPRAZOLE [Suspect]
     Active Substance: ESOMEPRAZOLE
     Indication: Gastritis
  1094. FELODIPINE [Suspect]
     Active Substance: FELODIPINE
     Indication: Hypertension
  1095. FELODIPINE [Suspect]
     Active Substance: FELODIPINE
     Dosage: 2.5 MILLIGRAM, 2 DOSE PER 1 D
  1096. GABAPENTIN [Suspect]
     Active Substance: GABAPENTIN
     Indication: Product used for unknown indication
  1097. GABAPENTIN [Suspect]
     Active Substance: GABAPENTIN
     Dosage: 300 MILLIGRAM, 3 DOSE PER 1 D
  1098. ADALIMUMAB [Suspect]
     Active Substance: ADALIMUMAB
     Indication: Crohn^s disease
  1099. ADALIMUMAB [Suspect]
     Active Substance: ADALIMUMAB
     Indication: Colitis ulcerative
  1100. ADALIMUMAB [Suspect]
     Active Substance: ADALIMUMAB
  1101. ADALIMUMAB [Suspect]
     Active Substance: ADALIMUMAB
  1102. ADALIMUMAB [Suspect]
     Active Substance: ADALIMUMAB
  1103. PULMICORT TURBUHALER [Suspect]
     Active Substance: BUDESONIDE
     Indication: Colitis ulcerative
  1104. PULMICORT TURBUHALER [Suspect]
     Active Substance: BUDESONIDE
     Dosage: 1 DOSAGE FORM, 1 DOSE PER 8W
  1105. PULMICORT TURBUHALER [Suspect]
     Active Substance: BUDESONIDE
  1106. PULMICORT TURBUHALER [Suspect]
     Active Substance: BUDESONIDE
     Dosage: 8 DOSAGE FORM, 1 DOSE PER 1 D
  1107. PULMICORT TURBUHALER [Suspect]
     Active Substance: BUDESONIDE
     Dosage: 8 DOSAGE FORM, 1 DOSE PER 8W
  1108. PULMICORT TURBUHALER [Suspect]
     Active Substance: BUDESONIDE
  1109. PULMICORT TURBUHALER [Suspect]
     Active Substance: BUDESONIDE
     Dosage: 1 DOSAGE FORM, 1 DOSE PER 1D
  1110. PULMICORT TURBUHALER [Suspect]
     Active Substance: BUDESONIDE
  1111. PULMICORT TURBUHALER [Suspect]
     Active Substance: BUDESONIDE
  1112. PULMICORT TURBUHALER [Suspect]
     Active Substance: BUDESONIDE
  1113. PULMICORT TURBUHALER [Suspect]
     Active Substance: BUDESONIDE
     Dosage: 245 DOSAGE FORM, 1 DOSE PER 1 D
  1114. PULMICORT TURBUHALER [Suspect]
     Active Substance: BUDESONIDE
  1115. HYDROCORTISONE ACETATE [Suspect]
     Active Substance: HYDROCORTISONE ACETATE
     Indication: Crohn^s disease
  1116. HYDROCORTISONE ACETATE [Suspect]
     Active Substance: HYDROCORTISONE ACETATE
     Indication: Colitis ulcerative
  1117. HYDROCORTISONE ACETATE [Suspect]
     Active Substance: HYDROCORTISONE ACETATE
  1118. HYDROCORTISONE ACETATE [Suspect]
     Active Substance: HYDROCORTISONE ACETATE
     Dosage: 1 DOSAGE FORM, 1 DOSE PER 1D
  1119. HYDROCORTISONE ACETATE [Suspect]
     Active Substance: HYDROCORTISONE ACETATE
     Dosage: 8 DOSAGE FORM, 1 DOSE PER 1D
  1120. HYDROCORTISONE ACETATE [Suspect]
     Active Substance: HYDROCORTISONE ACETATE
  1121. HYDROCORTISONE ACETATE [Suspect]
     Active Substance: HYDROCORTISONE ACETATE
     Dosage: 8 DOSAGE FORM, 1 DOSE PER 8W
  1122. HYDROCORTISONE ACETATE [Suspect]
     Active Substance: HYDROCORTISONE ACETATE
  1123. HYDROCORTISONE ACETATE [Suspect]
     Active Substance: HYDROCORTISONE ACETATE
  1124. HYDROCORTISONE ACETATE [Suspect]
     Active Substance: HYDROCORTISONE ACETATE
     Dosage: 8 MILLIGRAM, 1 DOSE PER 1W
  1125. HYDROCORTISONE ACETATE [Suspect]
     Active Substance: HYDROCORTISONE ACETATE
     Dosage: 6 MILLIGRAM, 1 DOSE PER 1W
  1126. HYDROCORTISONE ACETATE [Suspect]
     Active Substance: HYDROCORTISONE ACETATE
  1127. DAPAGLIFLOZIN [Suspect]
     Active Substance: DAPAGLIFLOZIN
     Indication: Ill-defined disorder
  1128. DAPAGLIFLOZIN [Suspect]
     Active Substance: DAPAGLIFLOZIN
     Indication: Cardiac failure chronic
  1129. ENTYVIO [Suspect]
     Active Substance: VEDOLIZUMAB
     Indication: Deep vein thrombosis
  1130. ENTYVIO [Suspect]
     Active Substance: VEDOLIZUMAB
     Indication: Colitis ulcerative
  1131. ENTYVIO [Suspect]
     Active Substance: VEDOLIZUMAB
  1132. ENTYVIO [Suspect]
     Active Substance: VEDOLIZUMAB
     Dosage: 1 DOSAGE FORM, 1 DOSE PER 1D
  1133. ENTYVIO [Suspect]
     Active Substance: VEDOLIZUMAB
     Dosage: 8 DOSAGE FORM, 1 DOSE PER 8W
  1134. ENTYVIO [Suspect]
     Active Substance: VEDOLIZUMAB
  1135. ENTYVIO [Suspect]
     Active Substance: VEDOLIZUMAB
  1136. ENTYVIO [Suspect]
     Active Substance: VEDOLIZUMAB
  1137. ENTYVIO [Suspect]
     Active Substance: VEDOLIZUMAB
  1138. ENTYVIO [Suspect]
     Active Substance: VEDOLIZUMAB
  1139. HYDROCORTISONE [Suspect]
     Active Substance: HYDROCORTISONE
     Indication: Colitis ulcerative
  1140. HYDROCORTISONE [Suspect]
     Active Substance: HYDROCORTISONE
     Indication: Colitis ulcerative
  1141. HYDROCORTISONE [Suspect]
     Active Substance: HYDROCORTISONE
     Dosage: 1 DOSAGE FORM, 1 DOSE PER 1D
  1142. HYDROCORTISONE [Suspect]
     Active Substance: HYDROCORTISONE
     Dosage: 3 DOSAGE FORM;  2 EVERY 1 DAYS
  1143. HYDROCORTISONE [Suspect]
     Active Substance: HYDROCORTISONE
  1144. HYDROCORTISONE [Suspect]
     Active Substance: HYDROCORTISONE
     Dosage: 8 DOSAGE FORM, 1 DOSE PER 8W
  1145. HYDROCORTISONE [Suspect]
     Active Substance: HYDROCORTISONE
  1146. HYDROCORTISONE [Suspect]
     Active Substance: HYDROCORTISONE
     Dosage: 8 DOSAGE FORM, 1 EVERY 1 DAYS
  1147. HYDROCORTISONE [Suspect]
     Active Substance: HYDROCORTISONE
     Dosage: 3 DOSAGE FORM;  2 EVERY 1 DAYS
  1148. HYDROCORTISONE [Suspect]
     Active Substance: HYDROCORTISONE
     Dosage: 8 DOSAGE FORM, 1 EVERY 1 DAYS
  1149. HYDROCORTISONE [Suspect]
     Active Substance: HYDROCORTISONE
     Dosage: 1 DOSAGE FORM  1 EVERY 1 DAYS
  1150. HYDROCORTISONE [Suspect]
     Active Substance: HYDROCORTISONE
     Dosage: 1 DOSAGE FORM  1 EVERY 1 DAYS
  1151. HYDROCORTISONE [Suspect]
     Active Substance: HYDROCORTISONE
  1152. HYDROCORTISONE [Suspect]
     Active Substance: HYDROCORTISONE
     Dosage: 1 DOSAGE FORM, QD
  1153. HYDROCORTISONE [Suspect]
     Active Substance: HYDROCORTISONE
     Dosage: 8 DOSAGE FORM, 1 EVERY 1 DAYS
  1154. HYDROCORTISONE [Suspect]
     Active Substance: HYDROCORTISONE
     Dosage: 8 DOSAGE FORM, 1 EVERY 1 DAYS
  1155. HYDROCORTISONE [Suspect]
     Active Substance: HYDROCORTISONE
  1156. HYDROCORTISONE [Suspect]
     Active Substance: HYDROCORTISONE
  1157. HYDROCORTISONE [Suspect]
     Active Substance: HYDROCORTISONE
  1158. HYDROCORTISONE [Suspect]
     Active Substance: HYDROCORTISONE
  1159. HYDROCORTISONE [Suspect]
     Active Substance: HYDROCORTISONE
  1160. HYDROCORTISONE [Suspect]
     Active Substance: HYDROCORTISONE
     Dosage: 1 DOSAGE FORM  1 EVERY 1 DAYS
  1161. HYDROCORTISONE [Suspect]
     Active Substance: HYDROCORTISONE
     Dosage: 1 DOSAGE FORM  1 EVERY 1 DAYS
  1162. HYDROCORTISONE [Suspect]
     Active Substance: HYDROCORTISONE
     Dosage: 1 EVERY 8 WEEKS
  1163. HYDROCORTISONE [Suspect]
     Active Substance: HYDROCORTISONE
     Dosage: 1 EVERY 8 WEEKS
  1164. HYDROCORTISONE [Suspect]
     Active Substance: HYDROCORTISONE
  1165. HYDROCORTISONE [Suspect]
     Active Substance: HYDROCORTISONE
  1166. HYDROCORTISONE [Suspect]
     Active Substance: HYDROCORTISONE
     Dosage: 1 DOSAGE FORM, QD
  1167. HYDROCORTISONE [Suspect]
     Active Substance: HYDROCORTISONE
     Dosage: 1 DOSAGE FORM, QD
  1168. HYDROCORTISONE [Suspect]
     Active Substance: HYDROCORTISONE
     Dosage: 1 DOSAGE FORM, QD
  1169. OMEPRAZOLE [Suspect]
     Active Substance: OMEPRAZOLE
     Indication: Gastritis
  1170. OMEPRAZOLE [Suspect]
     Active Substance: OMEPRAZOLE
  1171. OMEPRAZOLE [Suspect]
     Active Substance: OMEPRAZOLE
     Dosage: 20 MILLIGRAM, CAPSULE
  1172. OXYCODONE [Suspect]
     Active Substance: OXYCODONE
     Indication: Product used for unknown indication
  1173. OXYCODONE [Suspect]
     Active Substance: OXYCODONE
     Dosage: 5 MILLIGRAM, 2 DOSE PER 1 D
  1174. PREDNISONE [Suspect]
     Active Substance: PREDNISONE
     Indication: Colitis ulcerative
  1175. PREDNISONE [Suspect]
     Active Substance: PREDNISONE
  1176. PREDNISONE [Suspect]
     Active Substance: PREDNISONE
     Dosage: 40 MILLIGRAM, 1 DOSE PER 1D
  1177. PREDNISONE [Suspect]
     Active Substance: PREDNISONE
     Dosage: 50 MILLIGRAM, 1 DOSE PER 1D
  1178. PREDNISONE [Suspect]
     Active Substance: PREDNISONE
  1179. PREDNISONE [Suspect]
     Active Substance: PREDNISONE
  1180. ASPIRIN [Suspect]
     Active Substance: ASPIRIN
     Indication: Product used for unknown indication
  1181. WARFARIN [Suspect]
     Active Substance: WARFARIN
     Indication: Deep vein thrombosis
  1182. WARFARIN [Suspect]
     Active Substance: WARFARIN
     Indication: Colitis ulcerative
     Dosage: 8 DOSAGE FORM, 1 DOSE PER 1 D
  1183. WARFARIN [Suspect]
     Active Substance: WARFARIN
  1184. WARFARIN [Suspect]
     Active Substance: WARFARIN
     Dosage: 1 DOSAGE FORM, 1 DOSE PER 1 D
  1185. WARFARIN [Suspect]
     Active Substance: WARFARIN
     Dosage: 8 DOSAGE FORM, 1 DOSE PER 8W
  1186. VEDOLIZUMAB [Suspect]
     Active Substance: VEDOLIZUMAB
     Indication: Colitis ulcerative
  1187. VEDOLIZUMAB [Suspect]
     Active Substance: VEDOLIZUMAB
     Indication: Deep vein thrombosis
  1188. ESCITALOPRAM [Suspect]
     Active Substance: ESCITALOPRAM OXALATE
     Indication: Product used for unknown indication
  1189. ESCITALOPRAM [Suspect]
     Active Substance: ESCITALOPRAM OXALATE
  1190. ACETAMINOPHEN [Suspect]
     Active Substance: ACETAMINOPHEN
     Indication: Ill-defined disorder
     Dosage: 500 MILLIGRAM, 4 DOSE PER 1 D
  1191. ACETAMINOPHEN [Suspect]
     Active Substance: ACETAMINOPHEN
  1192. CRESTOR [Suspect]
     Active Substance: ROSUVASTATIN CALCIUM
     Indication: Blood cholesterol increased
  1193. CRESTOR [Suspect]
     Active Substance: ROSUVASTATIN CALCIUM
     Indication: Ill-defined disorder
  1194. CRESTOR [Suspect]
     Active Substance: ROSUVASTATIN CALCIUM
     Dosage: 10 MILLIGRAM, 1 DOSE PER 1 D
  1195. HUMIRA [Suspect]
     Active Substance: ADALIMUMAB
     Indication: Deep vein thrombosis
  1196. HUMIRA [Suspect]
     Active Substance: ADALIMUMAB
     Indication: Crohn^s disease
  1197. HUMIRA [Suspect]
     Active Substance: ADALIMUMAB
     Indication: Colitis ulcerative
  1198. HUMIRA [Suspect]
     Active Substance: ADALIMUMAB
  1199. HUMIRA [Suspect]
     Active Substance: ADALIMUMAB
  1200. HUMIRA [Suspect]
     Active Substance: ADALIMUMAB
  1201. INFLECTRA [Suspect]
     Active Substance: INFLIXIMAB-DYYB
     Indication: Crohn^s disease
  1202. INFLECTRA [Suspect]
     Active Substance: INFLIXIMAB-DYYB
     Indication: Colitis ulcerative
  1203. INFLECTRA [Suspect]
     Active Substance: INFLIXIMAB-DYYB
  1204. INFLECTRA [Suspect]
     Active Substance: INFLIXIMAB-DYYB
  1205. INFLECTRA [Suspect]
     Active Substance: INFLIXIMAB-DYYB
  1206. INFLECTRA [Suspect]
     Active Substance: INFLIXIMAB-DYYB
  1207. POLYETHYLENE GLYCOLS [Concomitant]
     Active Substance: POLYETHYLENE GLYCOLS
  1208. POLYETHYLENE GLYCOL 3350\POTASSIUM CHLORIDE\SODIUM BICARBONATE\SODIUM [Concomitant]
     Active Substance: POLYETHYLENE GLYCOL 3350\POTASSIUM CHLORIDE\SODIUM BICARBONATE\SODIUM CHLORIDE
     Indication: Ill-defined disorder
  1209. CALCIUM CARBONATE\CHOLECALCIFEROL [Concomitant]
     Active Substance: CALCIUM CARBONATE\CHOLECALCIFEROL
  1210. ALGINIC ACID\ALUMINUM HYDROXIDE\MAGNESIUM TRISILICATE\SODIUM BICARBONA [Concomitant]
     Active Substance: ALGINIC ACID\ALUMINUM HYDROXIDE\MAGNESIUM TRISILICATE\SODIUM BICARBONATE
  1211. CALCIUM CARBONATE/SODIUM ALGINATE/SODIUM BICARBONATE [Concomitant]
  1212. CALCIUM CARBONATE\CHOLECALCIFEROL [Concomitant]
     Active Substance: CALCIUM CARBONATE\CHOLECALCIFEROL
  1213. MAGNESIUM TRISILICATE [Concomitant]
     Active Substance: MAGNESIUM TRISILICATE
  1214. SODIUM BICARBONATE [Concomitant]
     Active Substance: SODIUM BICARBONATE
  1215. POTASSIUM CHLORIDE [Concomitant]
     Active Substance: POTASSIUM CHLORIDE
  1216. ASPIRIN [Suspect]
     Active Substance: ASPIRIN
     Indication: Product used for unknown indication
  1217. ADALIMUMAB [Suspect]
     Active Substance: ADALIMUMAB
     Indication: Crohn^s disease
  1218. ADALIMUMAB [Suspect]
     Active Substance: ADALIMUMAB
     Indication: Colitis ulcerative
  1219. PULMICORT TURBUHALER [Suspect]
     Active Substance: BUDESONIDE
     Indication: Colitis ulcerative
  1220. PULMICORT TURBUHALER [Suspect]
     Active Substance: BUDESONIDE
     Indication: Product used for unknown indication
  1221. PULMICORT TURBUHALER [Suspect]
     Active Substance: BUDESONIDE
  1222. PULMICORT TURBUHALER [Suspect]
     Active Substance: BUDESONIDE
  1223. PULMICORT TURBUHALER [Suspect]
     Active Substance: BUDESONIDE
  1224. PULMICORT TURBUHALER [Suspect]
     Active Substance: BUDESONIDE
  1225. PULMICORT TURBUHALER [Suspect]
     Active Substance: BUDESONIDE
  1226. PULMICORT TURBUHALER [Suspect]
     Active Substance: BUDESONIDE
  1227. PULMICORT TURBUHALER [Suspect]
     Active Substance: BUDESONIDE
     Dosage: 1 DOSAGE FORM, QD
  1228. PULMICORT TURBUHALER [Suspect]
     Active Substance: BUDESONIDE
  1229. PULMICORT TURBUHALER [Suspect]
     Active Substance: BUDESONIDE
     Dosage: 8 DOSAGE FORM,  1 EVERY 1 DAYS
  1230. DAPAGLIFLOZIN [Suspect]
     Active Substance: DAPAGLIFLOZIN
     Indication: Ill-defined disorder
  1231. FELODIPINE [Suspect]
     Active Substance: FELODIPINE
     Indication: Hypertension
     Dosage: 5 MILLIGRAM, DAILY (2.5 MILLIGRAM, 2 DOSE PER 1 D)
  1232. FELODIPINE [Suspect]
     Active Substance: FELODIPINE
  1233. ESOMEPRAZOLE [Suspect]
     Active Substance: ESOMEPRAZOLE
     Indication: Gastritis
  1234. ESCITALOPRAM OXALATE [Suspect]
     Active Substance: ESCITALOPRAM OXALATE
     Indication: Product used for unknown indication
  1235. METFORMIN HYDROCHLORIDE [Suspect]
     Active Substance: METFORMIN HYDROCHLORIDE
     Indication: Product used for unknown indication
  1236. OMEPRAZOLE [Suspect]
     Active Substance: OMEPRAZOLE
     Indication: Gastritis
  1237. PREDNISONE [Suspect]
     Active Substance: PREDNISONE
     Indication: Colitis ulcerative
  1238. PREDNISONE [Suspect]
     Active Substance: PREDNISONE
     Dosage: 50 MILLIGRAM,  1 EVERY 1 DAYS
  1239. PREDNISONE [Suspect]
     Active Substance: PREDNISONE
     Dosage: 40 MILLIGRAM,  1 EVERY 1 DAYS
  1240. PREDNISONE [Suspect]
     Active Substance: PREDNISONE
  1241. PREDNISONE [Suspect]
     Active Substance: PREDNISONE
  1242. PREDNISONE [Suspect]
     Active Substance: PREDNISONE
  1243. PREDNISONE [Suspect]
     Active Substance: PREDNISONE
  1244. VEDOLIZUMAB [Suspect]
     Active Substance: VEDOLIZUMAB
     Indication: Deep vein thrombosis
  1245. VEDOLIZUMAB [Suspect]
     Active Substance: VEDOLIZUMAB
     Indication: Colitis ulcerative
     Dosage: 1 DOSAGE FORM, QD
  1246. ROSUVASTATIN [Suspect]
     Active Substance: ROSUVASTATIN
     Indication: Ill-defined disorder
  1247. ROSUVASTATIN [Suspect]
     Active Substance: ROSUVASTATIN
     Indication: Blood cholesterol increased
  1248. ROSUVASTATIN [Suspect]
     Active Substance: ROSUVASTATIN
  1249. ROSUVASTATIN [Suspect]
     Active Substance: ROSUVASTATIN
  1250. SULFASALAZINE [Suspect]
     Active Substance: SULFASALAZINE
     Indication: Colitis ulcerative
  1251. SULFASALAZINE [Suspect]
     Active Substance: SULFASALAZINE
     Indication: Product used for unknown indication
  1252. SULFASALAZINE [Suspect]
     Active Substance: SULFASALAZINE
  1253. SULFASALAZINE [Suspect]
     Active Substance: SULFASALAZINE
     Dosage: 5 MILLIGRAM,  1 EVERY 1 DAYS
  1254. SULFASALAZINE [Suspect]
     Active Substance: SULFASALAZINE
  1255. SULFASALAZINE [Suspect]
     Active Substance: SULFASALAZINE
     Dosage: 3 MILLIGRAM,  1 EVERY 1 DAYS
  1256. SULFASALAZINE [Suspect]
     Active Substance: SULFASALAZINE
  1257. SULFASALAZINE [Suspect]
     Active Substance: SULFASALAZINE
  1258. SULFASALAZINE [Suspect]
     Active Substance: SULFASALAZINE
  1259. SULFASALAZINE [Suspect]
     Active Substance: SULFASALAZINE
  1260. SULFASALAZINE [Suspect]
     Active Substance: SULFASALAZINE
  1261. SULFASALAZINE [Suspect]
     Active Substance: SULFASALAZINE
  1262. LISDEXAMFETAMINE DIMESYLATE [Suspect]
     Active Substance: LISDEXAMFETAMINE DIMESYLATE
     Indication: Product used for unknown indication
  1263. WARFARIN SODIUM [Suspect]
     Active Substance: WARFARIN SODIUM
     Indication: Deep vein thrombosis
  1264. POLYETHYLENE GLYCOL 3350 [Concomitant]
     Active Substance: POLYETHYLENE GLYCOL 3350
     Indication: Product used for unknown indication
  1265. ALGINIC ACID [Concomitant]
     Active Substance: ALGINIC ACID
     Indication: Ill-defined disorder
  1266. ALUMINUM HYDROXIDE GEL [Concomitant]
     Active Substance: ALGELDRATE
  1267. SODIUM ALGINATE [Concomitant]
     Active Substance: SODIUM ALGINATE
  1268. OXYCODONE HYDROCHLORIDE [Suspect]
     Active Substance: OXYCODONE HYDROCHLORIDE
     Indication: Product used for unknown indication
     Dosage: 10 MILLIGRAM, DAILY (5 MILLIGRAM, 2 DOSE PER 1 D)
  1269. OXYCODONE HYDROCHLORIDE [Suspect]
     Active Substance: OXYCODONE HYDROCHLORIDE
     Dosage: 10 MILLIGRAM, DAILY (5 MILLIGRAM, 2 DOSE PER 1 D)
  1270. OXYCODONE HYDROCHLORIDE [Suspect]
     Active Substance: OXYCODONE HYDROCHLORIDE
     Dosage: 10 MILLIGRAM, DAILY (5 MILLIGRAM, 2 DOSE PER 1 D)
  1271. OXYCODONE HYDROCHLORIDE [Suspect]
     Active Substance: OXYCODONE HYDROCHLORIDE
     Dosage: 10 MILLIGRAM, DAILY (5 MILLIGRAM, 2 DOSE PER 1 D)
  1272. OXYCODONE HYDROCHLORIDE [Suspect]
     Active Substance: OXYCODONE HYDROCHLORIDE
  1273. OXYCODONE HYDROCHLORIDE [Suspect]
     Active Substance: OXYCODONE HYDROCHLORIDE
  1274. OXYCODONE HYDROCHLORIDE [Suspect]
     Active Substance: OXYCODONE HYDROCHLORIDE
  1275. OXYCODONE HYDROCHLORIDE [Suspect]
     Active Substance: OXYCODONE HYDROCHLORIDE
  1276. ADALIMUMAB [Suspect]
     Active Substance: ADALIMUMAB
     Indication: Crohn^s disease
  1277. ADALIMUMAB [Suspect]
     Active Substance: ADALIMUMAB
     Indication: Colitis ulcerative
  1278. ADALIMUMAB [Suspect]
     Active Substance: ADALIMUMAB
  1279. ADALIMUMAB [Suspect]
     Active Substance: ADALIMUMAB
  1280. ADALIMUMAB [Suspect]
     Active Substance: ADALIMUMAB
     Indication: Crohn^s disease
  1281. ADALIMUMAB [Suspect]
     Active Substance: ADALIMUMAB
     Indication: Colitis ulcerative
  1282. ADALIMUMAB [Suspect]
     Active Substance: ADALIMUMAB
  1283. ADALIMUMAB [Suspect]
     Active Substance: ADALIMUMAB
  1284. ALBENDAZOLE [Suspect]
     Active Substance: ALBENDAZOLE
     Indication: Deep vein thrombosis
  1285. ALBENDAZOLE [Suspect]
     Active Substance: ALBENDAZOLE
     Indication: Colitis ulcerative
  1286. ALBENDAZOLE [Suspect]
     Active Substance: ALBENDAZOLE
  1287. ALBENDAZOLE [Suspect]
     Active Substance: ALBENDAZOLE
  1288. ALBENDAZOLE [Suspect]
     Active Substance: ALBENDAZOLE
  1289. ALBENDAZOLE [Suspect]
     Active Substance: ALBENDAZOLE
  1290. ALBENDAZOLE [Suspect]
     Active Substance: ALBENDAZOLE
  1291. ALBENDAZOLE [Suspect]
     Active Substance: ALBENDAZOLE
  1292. ALBENDAZOLE [Suspect]
     Active Substance: ALBENDAZOLE
  1293. ALBENDAZOLE [Suspect]
     Active Substance: ALBENDAZOLE
  1294. ALBENDAZOLE [Suspect]
     Active Substance: ALBENDAZOLE
  1295. ALBENDAZOLE [Suspect]
     Active Substance: ALBENDAZOLE
  1296. ASACOL [Suspect]
     Active Substance: MESALAMINE
     Indication: Colitis ulcerative
     Dosage: 3 GRAM,  EVERY 12 HOURS
  1297. ASACOL [Suspect]
     Active Substance: MESALAMINE
     Indication: Product used for unknown indication
     Dosage: 3 GRAM,  EVERY 12 HOURS
  1298. ASACOL [Suspect]
     Active Substance: MESALAMINE
     Dosage: 3 GRAM,  EVERY 12 HOURS
  1299. ASACOL [Suspect]
     Active Substance: MESALAMINE
     Dosage: 3 GRAM,  EVERY 12 HOURS
  1300. ASACOL [Suspect]
     Active Substance: MESALAMINE
  1301. ASACOL [Suspect]
     Active Substance: MESALAMINE
  1302. ASACOL [Suspect]
     Active Substance: MESALAMINE
  1303. ASACOL [Suspect]
     Active Substance: MESALAMINE
  1304. ASACOL [Suspect]
     Active Substance: MESALAMINE
  1305. ASACOL [Suspect]
     Active Substance: MESALAMINE
  1306. ASACOL [Suspect]
     Active Substance: MESALAMINE
  1307. ASACOL [Suspect]
     Active Substance: MESALAMINE
  1308. ASACOL [Suspect]
     Active Substance: MESALAMINE
     Dosage: 1 DOSAGE FORM,  1 EVERY 1 DAYS
  1309. ASACOL [Suspect]
     Active Substance: MESALAMINE
     Dosage: 1 DOSAGE FORM,  1 EVERY 1 DAYS
  1310. ASACOL [Suspect]
     Active Substance: MESALAMINE
     Dosage: 1 DOSAGE FORM,  1 EVERY 1 DAYS
  1311. ASACOL [Suspect]
     Active Substance: MESALAMINE
     Dosage: 1 DOSAGE FORM,  1 EVERY 1 DAYS
  1312. ASACOL [Suspect]
     Active Substance: MESALAMINE
     Dosage: 3 DOSAGE FORM, Q12H
  1313. ASACOL [Suspect]
     Active Substance: MESALAMINE
     Dosage: 3 DOSAGE FORM, Q12H
  1314. ASACOL [Suspect]
     Active Substance: MESALAMINE
     Dosage: 3 DOSAGE FORM, Q12H
  1315. ASACOL [Suspect]
     Active Substance: MESALAMINE
     Dosage: 3 DOSAGE FORM, Q12H
  1316. ASACOL [Suspect]
     Active Substance: MESALAMINE
     Dosage: 3 GRAM,  1 EVERY 1 DAYS
  1317. ASACOL [Suspect]
     Active Substance: MESALAMINE
     Dosage: 3 GRAM,  1 EVERY 1 DAYS
  1318. ASACOL [Suspect]
     Active Substance: MESALAMINE
     Dosage: 3 GRAM,  1 EVERY 1 DAYS
  1319. ASACOL [Suspect]
     Active Substance: MESALAMINE
     Dosage: 3 GRAM,  1 EVERY 1 DAYS
  1320. ASACOL [Suspect]
     Active Substance: MESALAMINE
     Dosage: 12 DOSAGE FORM,  1 EVERY 1 DAYS
  1321. ASACOL [Suspect]
     Active Substance: MESALAMINE
     Dosage: 12 DOSAGE FORM,  1 EVERY 1 DAYS
  1322. ASACOL [Suspect]
     Active Substance: MESALAMINE
     Dosage: 12 DOSAGE FORM,  1 EVERY 1 DAYS
  1323. ASACOL [Suspect]
     Active Substance: MESALAMINE
     Dosage: 12 DOSAGE FORM,  1 EVERY 1 DAYS
  1324. ASACOL [Suspect]
     Active Substance: MESALAMINE
  1325. ASACOL [Suspect]
     Active Substance: MESALAMINE
  1326. ASACOL [Suspect]
     Active Substance: MESALAMINE
  1327. ASACOL [Suspect]
     Active Substance: MESALAMINE
  1328. ASACOL [Suspect]
     Active Substance: MESALAMINE
     Dosage: 4.8 DOSAGE FORM,  1 EVERY 1 DAYS
  1329. ASACOL [Suspect]
     Active Substance: MESALAMINE
     Dosage: 4.8 DOSAGE FORM,  1 EVERY 1 DAYS
  1330. ASACOL [Suspect]
     Active Substance: MESALAMINE
     Dosage: 4.8 DOSAGE FORM,  1 EVERY 1 DAYS
  1331. ASACOL [Suspect]
     Active Substance: MESALAMINE
     Dosage: 4.8 DOSAGE FORM,  1 EVERY 1 DAYS
  1332. ASACOL [Suspect]
     Active Substance: MESALAMINE
     Dosage: 6.0 DOSAGE FORM,  2 EVERY 1 DAYS
  1333. ASACOL [Suspect]
     Active Substance: MESALAMINE
     Dosage: 6.0 DOSAGE FORM,  2 EVERY 1 DAYS
  1334. ASACOL [Suspect]
     Active Substance: MESALAMINE
     Dosage: 6.0 DOSAGE FORM,  2 EVERY 1 DAYS
  1335. ASACOL [Suspect]
     Active Substance: MESALAMINE
     Dosage: 6.0 DOSAGE FORM,  2 EVERY 1 DAYS
  1336. ASACOL [Suspect]
     Active Substance: MESALAMINE
     Dosage: 4.8 DOSAGE FORM,  1 EVERY 1 DAYS
  1337. ASACOL [Suspect]
     Active Substance: MESALAMINE
     Dosage: 4.8 DOSAGE FORM,  1 EVERY 1 DAYS
  1338. ASACOL [Suspect]
     Active Substance: MESALAMINE
     Dosage: 4.8 DOSAGE FORM,  1 EVERY 1 DAYS
  1339. ASACOL [Suspect]
     Active Substance: MESALAMINE
     Dosage: 4.8 DOSAGE FORM,  1 EVERY 1 DAYS
  1340. ASACOL [Suspect]
     Active Substance: MESALAMINE
     Dosage: 6.0 DOSAGE FORM,  1 EVERY 1 DAYS
  1341. ASACOL [Suspect]
     Active Substance: MESALAMINE
     Dosage: 6.0 DOSAGE FORM,  1 EVERY 1 DAYS
  1342. ASACOL [Suspect]
     Active Substance: MESALAMINE
     Dosage: 6.0 DOSAGE FORM,  1 EVERY 1 DAYS
  1343. ASACOL [Suspect]
     Active Substance: MESALAMINE
     Dosage: 6.0 DOSAGE FORM,  1 EVERY 1 DAYS
  1344. ASACOL [Suspect]
     Active Substance: MESALAMINE
     Dosage: 3 GRAM,  2 EVERY 1 DAYS
  1345. ASACOL [Suspect]
     Active Substance: MESALAMINE
     Dosage: 3 GRAM,  2 EVERY 1 DAYS
  1346. ASACOL [Suspect]
     Active Substance: MESALAMINE
     Dosage: 3 GRAM,  2 EVERY 1 DAYS
  1347. ASACOL [Suspect]
     Active Substance: MESALAMINE
     Dosage: 3 GRAM,  2 EVERY 1 DAYS
  1348. ASACOL [Suspect]
     Active Substance: MESALAMINE
     Dosage: 2.4 GRAM,  1 EVERY 1 DAYS
  1349. ASACOL [Suspect]
     Active Substance: MESALAMINE
     Dosage: 2.4 GRAM,  1 EVERY 1 DAYS
  1350. ASACOL [Suspect]
     Active Substance: MESALAMINE
     Dosage: 2.4 GRAM,  1 EVERY 1 DAYS
  1351. ASACOL [Suspect]
     Active Substance: MESALAMINE
     Dosage: 2.4 GRAM,  1 EVERY 1 DAYS
  1352. ASACOL [Suspect]
     Active Substance: MESALAMINE
     Dosage: 1 DOSAGE FORM,  1 EVERY 1 DAYS
  1353. ASACOL [Suspect]
     Active Substance: MESALAMINE
     Dosage: 1 DOSAGE FORM,  1 EVERY 1 DAYS
  1354. ASACOL [Suspect]
     Active Substance: MESALAMINE
     Dosage: 1 DOSAGE FORM,  1 EVERY 1 DAYS
  1355. ASACOL [Suspect]
     Active Substance: MESALAMINE
     Dosage: 1 DOSAGE FORM,  1 EVERY 1 DAYS
  1356. PULMICORT TURBUHALER [Suspect]
     Active Substance: BUDESONIDE
     Dosage: 8 DOSAGE FORM; 1 EVERY 8 WEEK
  1357. PULMICORT TURBUHALER [Suspect]
     Active Substance: BUDESONIDE
     Dosage: 8 DOSAGE FORM; 1 EVERY 8 WEEK
  1358. PULMICORT TURBUHALER [Suspect]
     Active Substance: BUDESONIDE
     Dosage: 8 DOSAGE FORM; 1 EVERY 8 WEEK
  1359. PULMICORT TURBUHALER [Suspect]
     Active Substance: BUDESONIDE
     Dosage: 8 DOSAGE FORM; 1 EVERY 8 WEEK
  1360. PULMICORT TURBUHALER [Suspect]
     Active Substance: BUDESONIDE
     Dosage: 1 DOSAGE FORM  1 EVERY 1 DAYS
  1361. PULMICORT TURBUHALER [Suspect]
     Active Substance: BUDESONIDE
     Dosage: 1 DOSAGE FORM  1 EVERY 1 DAYS
  1362. PULMICORT TURBUHALER [Suspect]
     Active Substance: BUDESONIDE
     Dosage: 1 DOSAGE FORM  1 EVERY 1 DAYS
  1363. PULMICORT TURBUHALER [Suspect]
     Active Substance: BUDESONIDE
     Dosage: 1 DOSAGE FORM  1 EVERY 1 DAYS
  1364. PULMICORT TURBUHALER [Suspect]
     Active Substance: BUDESONIDE
     Dosage: 1 DOSAGE FORM; 1 EVERY 8 WEEKS
  1365. PULMICORT TURBUHALER [Suspect]
     Active Substance: BUDESONIDE
     Dosage: 1 DOSAGE FORM; 1 EVERY 8 WEEKS
  1366. PULMICORT TURBUHALER [Suspect]
     Active Substance: BUDESONIDE
     Dosage: 1 DOSAGE FORM; 1 EVERY 8 WEEKS
  1367. PULMICORT TURBUHALER [Suspect]
     Active Substance: BUDESONIDE
     Dosage: 1 DOSAGE FORM; 1 EVERY 8 WEEKS
  1368. PULMICORT TURBUHALER [Suspect]
     Active Substance: BUDESONIDE
  1369. PULMICORT TURBUHALER [Suspect]
     Active Substance: BUDESONIDE
  1370. PULMICORT TURBUHALER [Suspect]
     Active Substance: BUDESONIDE
  1371. PULMICORT TURBUHALER [Suspect]
     Active Substance: BUDESONIDE
  1372. PULMICORT TURBUHALER [Suspect]
     Active Substance: BUDESONIDE
  1373. PULMICORT TURBUHALER [Suspect]
     Active Substance: BUDESONIDE
  1374. PULMICORT TURBUHALER [Suspect]
     Active Substance: BUDESONIDE
  1375. PULMICORT TURBUHALER [Suspect]
     Active Substance: BUDESONIDE
  1376. PULMICORT TURBUHALER [Suspect]
     Active Substance: BUDESONIDE
  1377. PULMICORT TURBUHALER [Suspect]
     Active Substance: BUDESONIDE
  1378. PULMICORT TURBUHALER [Suspect]
     Active Substance: BUDESONIDE
  1379. PULMICORT TURBUHALER [Suspect]
     Active Substance: BUDESONIDE
  1380. PULMICORT TURBUHALER [Suspect]
     Active Substance: BUDESONIDE
  1381. PULMICORT TURBUHALER [Suspect]
     Active Substance: BUDESONIDE
  1382. PULMICORT TURBUHALER [Suspect]
     Active Substance: BUDESONIDE
  1383. PULMICORT TURBUHALER [Suspect]
     Active Substance: BUDESONIDE
  1384. PULMICORT TURBUHALER [Suspect]
     Active Substance: BUDESONIDE
     Dosage: 1 DOSAGE FORM, QD
  1385. PULMICORT TURBUHALER [Suspect]
     Active Substance: BUDESONIDE
     Dosage: 1 DOSAGE FORM, QD
  1386. PULMICORT TURBUHALER [Suspect]
     Active Substance: BUDESONIDE
     Dosage: 1 DOSAGE FORM, QD
  1387. PULMICORT TURBUHALER [Suspect]
     Active Substance: BUDESONIDE
     Dosage: 1 DOSAGE FORM, QD
  1388. PULMICORT TURBUHALER [Suspect]
     Active Substance: BUDESONIDE
     Dosage: 1 DOSAGE FORM, QD
  1389. PULMICORT TURBUHALER [Suspect]
     Active Substance: BUDESONIDE
     Dosage: 1 DOSAGE FORM, QD
  1390. PULMICORT TURBUHALER [Suspect]
     Active Substance: BUDESONIDE
     Dosage: 1 DOSAGE FORM, QD
  1391. PULMICORT TURBUHALER [Suspect]
     Active Substance: BUDESONIDE
     Dosage: 1 DOSAGE FORM, QD
  1392. PULMICORT TURBUHALER [Suspect]
     Active Substance: BUDESONIDE
     Dosage: 8 DOSAGE FORM, Q8WK
  1393. PULMICORT TURBUHALER [Suspect]
     Active Substance: BUDESONIDE
     Dosage: 8 DOSAGE FORM, Q8WK
  1394. PULMICORT TURBUHALER [Suspect]
     Active Substance: BUDESONIDE
     Dosage: 8 DOSAGE FORM, Q8WK
  1395. PULMICORT TURBUHALER [Suspect]
     Active Substance: BUDESONIDE
     Dosage: 8 DOSAGE FORM, Q8WK
  1396. PULMICORT TURBUHALER [Suspect]
     Active Substance: BUDESONIDE
     Dosage: 8 DOSAGE FORM,  1 EVERY 1 DAYS
  1397. PULMICORT TURBUHALER [Suspect]
     Active Substance: BUDESONIDE
     Dosage: 8 DOSAGE FORM,  1 EVERY 1 DAYS
  1398. PULMICORT TURBUHALER [Suspect]
     Active Substance: BUDESONIDE
     Dosage: 8 DOSAGE FORM,  1 EVERY 1 DAYS
  1399. PULMICORT TURBUHALER [Suspect]
     Active Substance: BUDESONIDE
     Dosage: 8 DOSAGE FORM,  1 EVERY 1 DAYS
  1400. AZD-1222 [Suspect]
     Active Substance: AZD-1222
     Indication: COVID-19 immunisation
  1401. AZD-1222 [Suspect]
     Active Substance: AZD-1222
  1402. AZD-1222 [Suspect]
     Active Substance: AZD-1222
  1403. AZD-1222 [Suspect]
     Active Substance: AZD-1222
  1404. AZD-1222 [Suspect]
     Active Substance: AZD-1222
  1405. AZD-1222 [Suspect]
     Active Substance: AZD-1222
  1406. AZD-1222 [Suspect]
     Active Substance: AZD-1222
  1407. AZD-1222 [Suspect]
     Active Substance: AZD-1222
  1408. AZD-1222 [Suspect]
     Active Substance: AZD-1222
  1409. AZD-1222 [Suspect]
     Active Substance: AZD-1222
  1410. AZD-1222 [Suspect]
     Active Substance: AZD-1222
  1411. AZD-1222 [Suspect]
     Active Substance: AZD-1222
  1412. AZD-1222 [Suspect]
     Active Substance: AZD-1222
  1413. AZD-1222 [Suspect]
     Active Substance: AZD-1222
  1414. AZD-1222 [Suspect]
     Active Substance: AZD-1222
  1415. AZD-1222 [Suspect]
     Active Substance: AZD-1222
  1416. AZD-1222 [Suspect]
     Active Substance: AZD-1222
  1417. AZD-1222 [Suspect]
     Active Substance: AZD-1222
  1418. AZD-1222 [Suspect]
     Active Substance: AZD-1222
  1419. AZD-1222 [Suspect]
     Active Substance: AZD-1222
  1420. AZD-1222 [Suspect]
     Active Substance: AZD-1222
  1421. AZD-1222 [Suspect]
     Active Substance: AZD-1222
  1422. AZD-1222 [Suspect]
     Active Substance: AZD-1222
  1423. AZD-1222 [Suspect]
     Active Substance: AZD-1222
  1424. AZD-1222 [Suspect]
     Active Substance: AZD-1222
  1425. AZD-1222 [Suspect]
     Active Substance: AZD-1222
  1426. AZD-1222 [Suspect]
     Active Substance: AZD-1222
  1427. AZD-1222 [Suspect]
     Active Substance: AZD-1222
  1428. CORTIFOAM [Suspect]
     Active Substance: HYDROCORTISONE ACETATE
     Indication: Deep vein thrombosis
     Dosage: 1 DOSAGE FORM, 1 EVERY 1 DAYS
  1429. CORTIFOAM [Suspect]
     Active Substance: HYDROCORTISONE ACETATE
     Indication: Colitis ulcerative
     Dosage: 1 DOSAGE FORM, 1 EVERY 1 DAYS
  1430. CORTIFOAM [Suspect]
     Active Substance: HYDROCORTISONE ACETATE
     Dosage: 1 DOSAGE FORM, 1 EVERY 1 DAYS
  1431. CORTIFOAM [Suspect]
     Active Substance: HYDROCORTISONE ACETATE
     Dosage: 1 DOSAGE FORM, 1 EVERY 1 DAYS
  1432. CORTIFOAM [Suspect]
     Active Substance: HYDROCORTISONE ACETATE
  1433. CORTIFOAM [Suspect]
     Active Substance: HYDROCORTISONE ACETATE
  1434. CORTIFOAM [Suspect]
     Active Substance: HYDROCORTISONE ACETATE
  1435. CORTIFOAM [Suspect]
     Active Substance: HYDROCORTISONE ACETATE
  1436. CORTIFOAM [Suspect]
     Active Substance: HYDROCORTISONE ACETATE
  1437. CORTIFOAM [Suspect]
     Active Substance: HYDROCORTISONE ACETATE
  1438. CORTIFOAM [Suspect]
     Active Substance: HYDROCORTISONE ACETATE
  1439. CORTIFOAM [Suspect]
     Active Substance: HYDROCORTISONE ACETATE
  1440. CORTIFOAM [Suspect]
     Active Substance: HYDROCORTISONE ACETATE
  1441. CORTIFOAM [Suspect]
     Active Substance: HYDROCORTISONE ACETATE
  1442. CORTIFOAM [Suspect]
     Active Substance: HYDROCORTISONE ACETATE
     Dosage: 1 DOSAGE FORM, 1 EVERY 1 DAYS
  1443. CORTIFOAM [Suspect]
     Active Substance: HYDROCORTISONE ACETATE
     Dosage: 1 DOSAGE FORM, 1 EVERY 1 DAYS
  1444. CORTIFOAM [Suspect]
     Active Substance: HYDROCORTISONE ACETATE
     Dosage: UNK
  1445. CORTIFOAM [Suspect]
     Active Substance: HYDROCORTISONE ACETATE
     Dosage: UNK
  1446. CORTIFOAM [Suspect]
     Active Substance: HYDROCORTISONE ACETATE
  1447. CORTIFOAM [Suspect]
     Active Substance: HYDROCORTISONE ACETATE
  1448. CORTIFOAM [Suspect]
     Active Substance: HYDROCORTISONE ACETATE
  1449. CORTIFOAM [Suspect]
     Active Substance: HYDROCORTISONE ACETATE
  1450. CORTIFOAM [Suspect]
     Active Substance: HYDROCORTISONE ACETATE
  1451. CORTIFOAM [Suspect]
     Active Substance: HYDROCORTISONE ACETATE
  1452. CORTIFOAM [Suspect]
     Active Substance: HYDROCORTISONE ACETATE
     Dosage: 8 DOSAGE FORM, Q8WK
  1453. CORTIFOAM [Suspect]
     Active Substance: HYDROCORTISONE ACETATE
     Dosage: 8 DOSAGE FORM, Q8WK
  1454. CORTIFOAM [Suspect]
     Active Substance: HYDROCORTISONE ACETATE
     Dosage: 8 DOSAGE FORM, Q8WK
  1455. CORTIFOAM [Suspect]
     Active Substance: HYDROCORTISONE ACETATE
     Dosage: 8 DOSAGE FORM, Q8WK
  1456. CORTIFOAM [Suspect]
     Active Substance: HYDROCORTISONE ACETATE
     Indication: Colitis ulcerative
  1457. CORTIFOAM [Suspect]
     Active Substance: HYDROCORTISONE ACETATE
  1458. CORTIFOAM [Suspect]
     Active Substance: HYDROCORTISONE ACETATE
  1459. CORTIFOAM [Suspect]
     Active Substance: HYDROCORTISONE ACETATE
  1460. CORTISONE [Suspect]
     Active Substance: CORTISONE
     Indication: Crohn^s disease
     Dosage: 8 DOSAGE FORM,  1 EVERY 1 DAYS
  1461. CORTISONE [Suspect]
     Active Substance: CORTISONE
     Indication: Colitis ulcerative
     Dosage: 8 DOSAGE FORM,  1 EVERY 1 DAYS
  1462. CORTISONE [Suspect]
     Active Substance: CORTISONE
     Dosage: 8 DOSAGE FORM,  1 EVERY 1 DAYS
  1463. CORTISONE [Suspect]
     Active Substance: CORTISONE
     Dosage: 8 DOSAGE FORM,  1 EVERY 1 DAYS
  1464. CORTISONE [Suspect]
     Active Substance: CORTISONE
  1465. CORTISONE [Suspect]
     Active Substance: CORTISONE
  1466. CORTISONE [Suspect]
     Active Substance: CORTISONE
  1467. CORTISONE [Suspect]
     Active Substance: CORTISONE
  1468. CORTISONE [Suspect]
     Active Substance: CORTISONE
  1469. CORTISONE [Suspect]
     Active Substance: CORTISONE
  1470. CORTISONE [Suspect]
     Active Substance: CORTISONE
  1471. CORTISONE [Suspect]
     Active Substance: CORTISONE
  1472. CORTISONE [Suspect]
     Active Substance: CORTISONE
  1473. CORTISONE [Suspect]
     Active Substance: CORTISONE
  1474. CORTISONE [Suspect]
     Active Substance: CORTISONE
  1475. CORTISONE [Suspect]
     Active Substance: CORTISONE
  1476. CORTISONE [Suspect]
     Active Substance: CORTISONE
  1477. CORTISONE [Suspect]
     Active Substance: CORTISONE
  1478. CORTISONE [Suspect]
     Active Substance: CORTISONE
  1479. CORTISONE [Suspect]
     Active Substance: CORTISONE
  1480. CORTISONE [Suspect]
     Active Substance: CORTISONE
  1481. CORTISONE [Suspect]
     Active Substance: CORTISONE
  1482. CORTISONE [Suspect]
     Active Substance: CORTISONE
  1483. CORTISONE [Suspect]
     Active Substance: CORTISONE
  1484. CORTISONE [Suspect]
     Active Substance: CORTISONE
  1485. CORTISONE [Suspect]
     Active Substance: CORTISONE
  1486. CORTISONE [Suspect]
     Active Substance: CORTISONE
  1487. CORTISONE [Suspect]
     Active Substance: CORTISONE
  1488. CORTISONE [Suspect]
     Active Substance: CORTISONE
  1489. CORTISONE [Suspect]
     Active Substance: CORTISONE
  1490. DAPAGLIFLOZIN [Suspect]
     Active Substance: DAPAGLIFLOZIN
     Indication: Ill-defined disorder
  1491. DAPAGLIFLOZIN [Suspect]
     Active Substance: DAPAGLIFLOZIN
  1492. DAPAGLIFLOZIN [Suspect]
     Active Substance: DAPAGLIFLOZIN
  1493. DAPAGLIFLOZIN [Suspect]
     Active Substance: DAPAGLIFLOZIN
  1494. ENTYVIO [Suspect]
     Active Substance: VEDOLIZUMAB
     Indication: Colitis ulcerative
     Dosage: 1 DOSAGE FORM,  1 EVERY 1 DAYS
  1495. ENTYVIO [Suspect]
     Active Substance: VEDOLIZUMAB
     Indication: Deep vein thrombosis
     Dosage: 1 DOSAGE FORM,  1 EVERY 1 DAYS
  1496. ENTYVIO [Suspect]
     Active Substance: VEDOLIZUMAB
     Indication: Product used for unknown indication
     Dosage: 1 DOSAGE FORM,  1 EVERY 1 DAYS
  1497. ENTYVIO [Suspect]
     Active Substance: VEDOLIZUMAB
     Dosage: 1 DOSAGE FORM,  1 EVERY 1 DAYS
  1498. ENTYVIO [Suspect]
     Active Substance: VEDOLIZUMAB
  1499. ENTYVIO [Suspect]
     Active Substance: VEDOLIZUMAB
  1500. ENTYVIO [Suspect]
     Active Substance: VEDOLIZUMAB
  1501. ENTYVIO [Suspect]
     Active Substance: VEDOLIZUMAB
  1502. ENTYVIO [Suspect]
     Active Substance: VEDOLIZUMAB
  1503. ENTYVIO [Suspect]
     Active Substance: VEDOLIZUMAB
  1504. ENTYVIO [Suspect]
     Active Substance: VEDOLIZUMAB
  1505. ENTYVIO [Suspect]
     Active Substance: VEDOLIZUMAB
  1506. ENTYVIO [Suspect]
     Active Substance: VEDOLIZUMAB
  1507. ENTYVIO [Suspect]
     Active Substance: VEDOLIZUMAB
  1508. ENTYVIO [Suspect]
     Active Substance: VEDOLIZUMAB
  1509. ENTYVIO [Suspect]
     Active Substance: VEDOLIZUMAB
  1510. ENTYVIO [Suspect]
     Active Substance: VEDOLIZUMAB
  1511. ENTYVIO [Suspect]
     Active Substance: VEDOLIZUMAB
  1512. ENTYVIO [Suspect]
     Active Substance: VEDOLIZUMAB
  1513. ENTYVIO [Suspect]
     Active Substance: VEDOLIZUMAB
  1514. ENTYVIO [Suspect]
     Active Substance: VEDOLIZUMAB
  1515. ENTYVIO [Suspect]
     Active Substance: VEDOLIZUMAB
  1516. ENTYVIO [Suspect]
     Active Substance: VEDOLIZUMAB
  1517. ENTYVIO [Suspect]
     Active Substance: VEDOLIZUMAB
  1518. ENTYVIO [Suspect]
     Active Substance: VEDOLIZUMAB
  1519. ENTYVIO [Suspect]
     Active Substance: VEDOLIZUMAB
  1520. ENTYVIO [Suspect]
     Active Substance: VEDOLIZUMAB
  1521. ENTYVIO [Suspect]
     Active Substance: VEDOLIZUMAB
  1522. EPINEPHRINE HYDROCHLORIDE [Suspect]
     Active Substance: EPINEPHRINE HYDROCHLORIDE
     Indication: Product used for unknown indication
  1523. EPINEPHRINE HYDROCHLORIDE [Suspect]
     Active Substance: EPINEPHRINE HYDROCHLORIDE
  1524. EPINEPHRINE HYDROCHLORIDE [Suspect]
     Active Substance: EPINEPHRINE HYDROCHLORIDE
  1525. EPINEPHRINE HYDROCHLORIDE [Suspect]
     Active Substance: EPINEPHRINE HYDROCHLORIDE
  1526. FELODIPINE [Suspect]
     Active Substance: FELODIPINE
     Indication: Hypertension
     Dosage: 5 MILLIGRAM, DAILY (2.5 MILLIGRAM, 2 DOSE PER 1 D)
  1527. FELODIPINE [Suspect]
     Active Substance: FELODIPINE
     Dosage: 5 MILLIGRAM, DAILY (2.5 MILLIGRAM, 2 DOSE PER 1 D)
  1528. FELODIPINE [Suspect]
     Active Substance: FELODIPINE
     Dosage: 5 MILLIGRAM, DAILY (2.5 MILLIGRAM, 2 DOSE PER 1 D)
  1529. FELODIPINE [Suspect]
     Active Substance: FELODIPINE
     Dosage: 5 MILLIGRAM, DAILY (2.5 MILLIGRAM, 2 DOSE PER 1 D)
  1530. FELODIPINE [Suspect]
     Active Substance: FELODIPINE
  1531. FELODIPINE [Suspect]
     Active Substance: FELODIPINE
  1532. FELODIPINE [Suspect]
     Active Substance: FELODIPINE
  1533. FELODIPINE [Suspect]
     Active Substance: FELODIPINE
  1534. ESOMEPRAZOLE [Suspect]
     Active Substance: ESOMEPRAZOLE
     Indication: Gastritis
  1535. ESOMEPRAZOLE [Suspect]
     Active Substance: ESOMEPRAZOLE
  1536. ESOMEPRAZOLE [Suspect]
     Active Substance: ESOMEPRAZOLE
  1537. ESOMEPRAZOLE [Suspect]
     Active Substance: ESOMEPRAZOLE
  1538. ESCITALOPRAM [Suspect]
     Active Substance: ESCITALOPRAM OXALATE
     Indication: Product used for unknown indication
  1539. ESCITALOPRAM [Suspect]
     Active Substance: ESCITALOPRAM OXALATE
  1540. ESCITALOPRAM [Suspect]
     Active Substance: ESCITALOPRAM OXALATE
  1541. ESCITALOPRAM [Suspect]
     Active Substance: ESCITALOPRAM OXALATE
  1542. METFORMIN [Suspect]
     Active Substance: METFORMIN HYDROCHLORIDE
     Indication: Product used for unknown indication
  1543. METFORMIN [Suspect]
     Active Substance: METFORMIN HYDROCHLORIDE
  1544. METFORMIN [Suspect]
     Active Substance: METFORMIN HYDROCHLORIDE
  1545. METFORMIN [Suspect]
     Active Substance: METFORMIN HYDROCHLORIDE
  1546. OMEPRAZOLE [Suspect]
     Active Substance: OMEPRAZOLE
     Indication: Gastritis
  1547. OMEPRAZOLE [Suspect]
     Active Substance: OMEPRAZOLE
  1548. OMEPRAZOLE [Suspect]
     Active Substance: OMEPRAZOLE
  1549. OMEPRAZOLE [Suspect]
     Active Substance: OMEPRAZOLE
  1550. PREDNISONE [Suspect]
     Active Substance: PREDNISONE
     Indication: Colitis ulcerative
  1551. PREDNISONE [Suspect]
     Active Substance: PREDNISONE
  1552. PREDNISONE [Suspect]
     Active Substance: PREDNISONE
  1553. PREDNISONE [Suspect]
     Active Substance: PREDNISONE
  1554. PREDNISONE [Suspect]
     Active Substance: PREDNISONE
     Dosage: 50 MILLIGRAM,  1 EVERY 1 DAYS
  1555. PREDNISONE [Suspect]
     Active Substance: PREDNISONE
     Dosage: 50 MILLIGRAM,  1 EVERY 1 DAYS
  1556. PREDNISONE [Suspect]
     Active Substance: PREDNISONE
     Dosage: 40 MILLIGRAM,  1 EVERY 1 DAYS
  1557. PREDNISONE [Suspect]
     Active Substance: PREDNISONE
     Dosage: 40 MILLIGRAM,  1 EVERY 1 DAYS
  1558. PREDNISONE [Suspect]
     Active Substance: PREDNISONE
  1559. PREDNISONE [Suspect]
     Active Substance: PREDNISONE
  1560. PREDNISONE [Suspect]
     Active Substance: PREDNISONE
  1561. PREDNISONE [Suspect]
     Active Substance: PREDNISONE
  1562. PREDNISONE [Suspect]
     Active Substance: PREDNISONE
  1563. PREDNISONE [Suspect]
     Active Substance: PREDNISONE
  1564. PREDNISONE [Suspect]
     Active Substance: PREDNISONE
  1565. PREDNISONE [Suspect]
     Active Substance: PREDNISONE
  1566. VEDOLIZUMAB [Suspect]
     Active Substance: VEDOLIZUMAB
     Indication: Deep vein thrombosis
  1567. VEDOLIZUMAB [Suspect]
     Active Substance: VEDOLIZUMAB
     Indication: Colitis ulcerative
  1568. VEDOLIZUMAB [Suspect]
     Active Substance: VEDOLIZUMAB
  1569. VEDOLIZUMAB [Suspect]
     Active Substance: VEDOLIZUMAB
  1570. VEDOLIZUMAB [Suspect]
     Active Substance: VEDOLIZUMAB
     Dosage: 1 DOSAGE FORM, QD
  1571. VEDOLIZUMAB [Suspect]
     Active Substance: VEDOLIZUMAB
     Dosage: 1 DOSAGE FORM, QD
  1572. VEDOLIZUMAB [Suspect]
     Active Substance: VEDOLIZUMAB
     Dosage: 1 DOSAGE FORM, QD
  1573. VEDOLIZUMAB [Suspect]
     Active Substance: VEDOLIZUMAB
     Dosage: 1 DOSAGE FORM, QD
  1574. CRESTOR [Suspect]
     Active Substance: ROSUVASTATIN CALCIUM
     Indication: Ill-defined disorder
  1575. CRESTOR [Suspect]
     Active Substance: ROSUVASTATIN CALCIUM
     Indication: Blood cholesterol increased
  1576. CRESTOR [Suspect]
     Active Substance: ROSUVASTATIN CALCIUM
  1577. CRESTOR [Suspect]
     Active Substance: ROSUVASTATIN CALCIUM
  1578. CRESTOR [Suspect]
     Active Substance: ROSUVASTATIN CALCIUM
  1579. CRESTOR [Suspect]
     Active Substance: ROSUVASTATIN CALCIUM
  1580. CRESTOR [Suspect]
     Active Substance: ROSUVASTATIN CALCIUM
  1581. CRESTOR [Suspect]
     Active Substance: ROSUVASTATIN CALCIUM
  1582. CRESTOR [Suspect]
     Active Substance: ROSUVASTATIN CALCIUM
  1583. CRESTOR [Suspect]
     Active Substance: ROSUVASTATIN CALCIUM
  1584. WARFARIN [Suspect]
     Active Substance: WARFARIN
     Indication: Deep vein thrombosis
  1585. WARFARIN [Suspect]
     Active Substance: WARFARIN
  1586. WARFARIN [Suspect]
     Active Substance: WARFARIN
  1587. WARFARIN [Suspect]
     Active Substance: WARFARIN
  1588. ASPIRIN [Suspect]
     Active Substance: ASPIRIN
     Indication: Product used for unknown indication
  1589. ASPIRIN [Suspect]
     Active Substance: ASPIRIN
  1590. ASPIRIN [Suspect]
     Active Substance: ASPIRIN
  1591. ASPIRIN [Suspect]
     Active Substance: ASPIRIN

REACTIONS (106)
  - Accidental overdose [Not Recovered/Not Resolved]
  - Abdominal discomfort [Not Recovered/Not Resolved]
  - COVID-19 [Not Recovered/Not Resolved]
  - Arthritis [Not Recovered/Not Resolved]
  - Bronchiectasis [Not Recovered/Not Resolved]
  - Burns second degree [Not Recovered/Not Resolved]
  - Cardiac murmur [Not Recovered/Not Resolved]
  - Catarrh [Not Recovered/Not Resolved]
  - Cerebrovascular accident [Not Recovered/Not Resolved]
  - Colitis ulcerative [Not Recovered/Not Resolved]
  - Condition aggravated [Not Recovered/Not Resolved]
  - Confusional state [Not Recovered/Not Resolved]
  - Deep vein thrombosis [Not Recovered/Not Resolved]
  - Drug ineffective [Not Recovered/Not Resolved]
  - Depression [Not Recovered/Not Resolved]
  - Dysgeusia [Not Recovered/Not Resolved]
  - Fatigue [Not Recovered/Not Resolved]
  - Eczema [Not Recovered/Not Resolved]
  - Frequent bowel movements [Not Recovered/Not Resolved]
  - Gingival pain [Not Recovered/Not Resolved]
  - Haematochezia [Not Recovered/Not Resolved]
  - Headache [Not Recovered/Not Resolved]
  - Hypopnoea [Not Recovered/Not Resolved]
  - Loss of personal independence in daily activities [Not Recovered/Not Resolved]
  - Inappropriate schedule of product administration [Not Recovered/Not Resolved]
  - Impaired work ability [Not Recovered/Not Resolved]
  - Intentional product use issue [Not Recovered/Not Resolved]
  - Loss of personal independence in daily activities [Not Recovered/Not Resolved]
  - Medication error [Not Recovered/Not Resolved]
  - Migraine [Not Recovered/Not Resolved]
  - Nightmare [Not Recovered/Not Resolved]
  - Off label use [Not Recovered/Not Resolved]
  - Pain [Not Recovered/Not Resolved]
  - Pain in extremity [Not Recovered/Not Resolved]
  - Palpitations [Not Recovered/Not Resolved]
  - Parosmia [Not Recovered/Not Resolved]
  - Product use in unapproved indication [Not Recovered/Not Resolved]
  - Pulmonary embolism [Not Recovered/Not Resolved]
  - Pyrexia [Not Recovered/Not Resolved]
  - Rash [Not Recovered/Not Resolved]
  - Rectal haemorrhage [Not Recovered/Not Resolved]
  - Rhinitis [Not Recovered/Not Resolved]
  - Somnolence [Not Recovered/Not Resolved]
  - Steroid dependence [Not Recovered/Not Resolved]
  - Stress [Not Recovered/Not Resolved]
  - Swollen tongue [Not Recovered/Not Resolved]
  - Systemic lupus erythematosus [Not Recovered/Not Resolved]
  - Tinnitus [Not Recovered/Not Resolved]
  - Tubulointerstitial nephritis [Not Recovered/Not Resolved]
  - Vertigo [Not Recovered/Not Resolved]
  - Weight decreased [Not Recovered/Not Resolved]
  - Colitis ulcerative [Unknown]
  - Adverse drug reaction [Not Recovered/Not Resolved]
  - Alcohol poisoning [Not Recovered/Not Resolved]
  - Abdominal discomfort [Not Recovered/Not Resolved]
  - Accidental overdose [Not Recovered/Not Resolved]
  - Arthritis [Not Recovered/Not Resolved]
  - Bronchiectasis [Unknown]
  - Burns second degree [Not Recovered/Not Resolved]
  - Cardiac murmur [Not Recovered/Not Resolved]
  - Catarrh [Not Recovered/Not Resolved]
  - Cerebrovascular accident [Not Recovered/Not Resolved]
  - Colitis ulcerative [Not Recovered/Not Resolved]
  - Condition aggravated [Unknown]
  - Confusional state [Not Recovered/Not Resolved]
  - COVID-19 [Not Recovered/Not Resolved]
  - Deep vein thrombosis [Unknown]
  - Depression [Not Recovered/Not Resolved]
  - Drug ineffective [Unknown]
  - Dysgeusia [Not Recovered/Not Resolved]
  - Eczema [Not Recovered/Not Resolved]
  - Fatigue [Not Recovered/Not Resolved]
  - Frequent bowel movements [Not Recovered/Not Resolved]
  - Gingival pain [Not Recovered/Not Resolved]
  - Haematochezia [Not Recovered/Not Resolved]
  - Headache [Not Recovered/Not Resolved]
  - Hypopnoea [Not Recovered/Not Resolved]
  - Impaired quality of life [Unknown]
  - Impaired work ability [Not Recovered/Not Resolved]
  - Inappropriate schedule of product administration [Not Recovered/Not Resolved]
  - Intentional product use issue [Not Recovered/Not Resolved]
  - Loss of personal independence in daily activities [Not Recovered/Not Resolved]
  - Medication error [Unknown]
  - Migraine [Not Recovered/Not Resolved]
  - Nightmare [Not Recovered/Not Resolved]
  - Off label use [Not Recovered/Not Resolved]
  - Pain [Not Recovered/Not Resolved]
  - Pain in extremity [Not Recovered/Not Resolved]
  - Palpitations [Not Recovered/Not Resolved]
  - Parosmia [Not Recovered/Not Resolved]
  - Product use in unapproved indication [Unknown]
  - Pulmonary embolism [Not Recovered/Not Resolved]
  - Pyrexia [Not Recovered/Not Resolved]
  - Rash [Not Recovered/Not Resolved]
  - Rectal haemorrhage [Unknown]
  - Rhinitis [Not Recovered/Not Resolved]
  - Somnolence [Not Recovered/Not Resolved]
  - Steroid dependence [Not Recovered/Not Resolved]
  - Stress [Not Recovered/Not Resolved]
  - Swollen tongue [Not Recovered/Not Resolved]
  - Systemic lupus erythematosus [Not Recovered/Not Resolved]
  - Tinnitus [Not Recovered/Not Resolved]
  - Tubulointerstitial nephritis [Not Recovered/Not Resolved]
  - Vertigo [Not Recovered/Not Resolved]
  - Weight decreased [Not Recovered/Not Resolved]
  - Colitis ulcerative [Not Recovered/Not Resolved]
